FAERS Safety Report 25019761 (Version 3)
Quarter: 2025Q1

REPORT INFORMATION
  Report Type: Spontaneous
  Country: AT (occurrence: AT)
  Receive Date: 20250227
  Receipt Date: 20250310
  Transmission Date: 20250409
  Serious: Yes (Hospitalization, Other)
  Sender: SANDOZ
  Company Number: AT-ROCHE-2717907

PATIENT
  Age: 37 Year
  Sex: Female

DRUGS (741)
  1. ARANESP [Suspect]
     Active Substance: DARBEPOETIN ALFA
     Indication: Anaemia prophylaxis
     Route: 065
     Dates: start: 20161201, end: 201701
  2. CAPECITABINE [Suspect]
     Active Substance: CAPECITABINE
     Indication: Product used for unknown indication
     Dosage: 840 MG, TIW(840 MG, ONCE EVERY 3 WK)
     Route: 042
     Dates: start: 20161020, end: 20161020
  3. CYCLOPHOSPHAMIDE [Suspect]
     Active Substance: CYCLOPHOSPHAMIDE
     Indication: Breast cancer metastatic
     Route: 042
     Dates: start: 20161005
  4. CYTOXAN [Suspect]
     Active Substance: CYCLOPHOSPHAMIDE
     Indication: HER2 positive breast cancer
     Route: 042
     Dates: start: 20161005, end: 20161005
  5. DOCETAXEL [Suspect]
     Active Substance: DOCETAXEL
     Dosage: 100 UG/M2, Q3W
     Route: 042
     Dates: start: 20161201, end: 20161222
  6. DOCETAXEL [Suspect]
     Active Substance: DOCETAXEL
     Dosage: 100 UG/M2, Q3W
     Route: 042
     Dates: start: 20170112
  7. DOCETAXEL [Suspect]
     Active Substance: DOCETAXEL
     Indication: Breast cancer metastatic
     Dosage: 75 UG/M2, Q3W
     Route: 042
     Dates: start: 20161020
  8. DOCETAXEL [Suspect]
     Active Substance: DOCETAXEL
     Dosage: 75 UG/M2, Q3W
     Route: 042
     Dates: start: 20161111, end: 20161111
  9. DOCETAXEL [Suspect]
     Active Substance: DOCETAXEL
     Dosage: 420 MG, ONCE EVERY 3 WK
     Route: 042
     Dates: start: 20170202, end: 20180108
  10. DOCETAXEL [Suspect]
     Active Substance: DOCETAXEL
     Dosage: 420 MG, ONCE EVERY 3 WK
     Route: 042
     Dates: start: 20170227, end: 20180108
  11. DOCETAXEL [Suspect]
     Active Substance: DOCETAXEL
     Dosage: 420 MG, ONCE EVERY 3 WK
     Route: 042
     Dates: start: 20190906, end: 20210409
  12. DOCETAXEL [Suspect]
     Active Substance: DOCETAXEL
     Indication: Breast cancer metastatic
     Dosage: 75 MG/M2, TIW (MOST RECENT DOSE PRIOR TO THE EVENT: 12 JAN 2017)
     Route: 042
     Dates: start: 20161020
  13. DOCETAXEL [Suspect]
     Active Substance: DOCETAXEL
     Dosage: 800 MG, ONCE EVERY 3 WK
     Route: 042
     Dates: start: 20161020, end: 20161020
  14. DOCETAXEL [Suspect]
     Active Substance: DOCETAXEL
     Indication: Breast cancer metastatic
     Dosage: 840 MG, ONCE EVERY 3 WK
     Route: 042
     Dates: start: 20161020, end: 20161020
  15. DOCETAXEL [Suspect]
     Active Substance: DOCETAXEL
     Indication: HER2 positive breast cancer
     Dosage: 840 MG, ONCE EVERY 3 WK
     Route: 042
     Dates: start: 20170112, end: 20170112
  16. ELLENCE [Suspect]
     Active Substance: EPIRUBICIN HYDROCHLORIDE
     Indication: HER2 positive breast cancer
     Route: 042
     Dates: start: 20161005, end: 20161005
  17. ENHERTU [Suspect]
     Active Substance: FAM-TRASTUZUMAB DERUXTECAN-NXKI
     Dosage: 4.4 MG/KG, Q3W
     Route: 042
     Dates: start: 20221202, end: 20230714
  18. ENHERTU [Suspect]
     Active Substance: FAM-TRASTUZUMAB DERUXTECAN-NXKI
     Dosage: 4.4 MG/KG, Q3W
     Route: 042
     Dates: start: 20230811
  19. ENHERTU [Suspect]
     Active Substance: FAM-TRASTUZUMAB DERUXTECAN-NXKI
     Indication: HER2 positive breast cancer
     Dosage: 4.4 MG/KG, ONCE EVERY 3 WK
     Route: 042
     Dates: start: 20230811
  20. ENHERTU [Suspect]
     Active Substance: FAM-TRASTUZUMAB DERUXTECAN-NXKI
     Dosage: 4.4 MG/KG, ONCE EVERY 3 WK
     Route: 042
     Dates: start: 20221202, end: 20230714
  21. ENHERTU [Suspect]
     Active Substance: FAM-TRASTUZUMAB DERUXTECAN-NXKI
     Route: 042
     Dates: start: 20221202, end: 20230914
  22. ENHERTU [Suspect]
     Active Substance: FAM-TRASTUZUMAB DERUXTECAN-NXKI
     Indication: Diarrhoea
     Dosage: 5.4 MG/KG, Q3W
     Route: 042
     Dates: start: 20220924, end: 20221114
  23. ENHERTU [Suspect]
     Active Substance: FAM-TRASTUZUMAB DERUXTECAN-NXKI
     Dosage: 5.4 MG/KG, ONCE EVERY 3 WK
     Route: 042
     Dates: start: 20220924, end: 20221114
  24. ENHERTU [Suspect]
     Active Substance: FAM-TRASTUZUMAB DERUXTECAN-NXKI
     Route: 042
     Dates: start: 20220924, end: 20221114
  25. ENHERTU [Suspect]
     Active Substance: FAM-TRASTUZUMAB DERUXTECAN-NXKI
     Route: 042
     Dates: start: 20221114, end: 20221114
  26. EPIRUBICIN [Suspect]
     Active Substance: EPIRUBICIN
     Indication: Breast cancer metastatic
     Route: 042
     Dates: start: 20161005
  27. HERCEPTIN [Suspect]
     Active Substance: TRASTUZUMAB
     Dosage: 6.000MG/KG TIW
     Route: 042
     Dates: start: 20170202, end: 20180108
  28. HERCEPTIN [Suspect]
     Active Substance: TRASTUZUMAB
     Dosage: 6.000MG/KG TIW
     Route: 042
     Dates: start: 20190906, end: 20210927
  29. HERCEPTIN [Suspect]
     Active Substance: TRASTUZUMAB
     Dosage: 6.000MG/KG TIW
     Route: 042
     Dates: start: 20210929, end: 20220930
  30. HERCEPTIN [Suspect]
     Active Substance: TRASTUZUMAB
     Indication: HER2 positive breast cancer
     Dosage: 8.000MG/KG TIW
     Route: 042
     Dates: start: 20161020, end: 20161020
  31. HERCEPTIN [Suspect]
     Active Substance: TRASTUZUMAB
     Dosage: 8.000MG/KG TIW
     Route: 042
     Dates: start: 20170112, end: 20170112
  32. KADCYLA [Suspect]
     Active Substance: ADO-TRASTUZUMAB EMTANSINE
     Indication: HER2 positive breast cancer
     Dosage: 216 MG
     Route: 042
     Dates: start: 20180205, end: 20190816
  33. LOPERAMIDE [Suspect]
     Active Substance: LOPERAMIDE
     Indication: Epilepsy
     Route: 065
     Dates: start: 20171127
  34. LOPERAMIDE [Suspect]
     Active Substance: LOPERAMIDE
     Route: 065
  35. TUCATINIB [Suspect]
     Active Substance: TUCATINIB
     Indication: HER2 positive breast cancer
     Dosage: 300 MG, QD (0.5)
     Route: 048
     Dates: start: 20210129, end: 20221023
  36. TUCATINIB [Suspect]
     Active Substance: TUCATINIB
     Dosage: 300 MG, BID
     Route: 048
     Dates: start: 20210430, end: 20210927
  37. TUCATINIB [Suspect]
     Active Substance: TUCATINIB
     Dosage: 300 MG, BID
     Route: 048
     Dates: start: 20210929, end: 20221023
  38. TUCATINIB [Suspect]
     Active Substance: TUCATINIB
     Dosage: 300 MG, BID
     Route: 065
     Dates: start: 20210927
  39. TUCATINIB [Suspect]
     Active Substance: TUCATINIB
     Dosage: 600 MG, QD
     Route: 065
     Dates: start: 20210430, end: 20210927
  40. PERJETA [Suspect]
     Active Substance: PERTUZUMAB
     Dosage: 420.000MG TIW
     Route: 042
     Dates: start: 20170202, end: 20180108
  41. PERJETA [Suspect]
     Active Substance: PERTUZUMAB
     Dosage: 420.000MG TIW
     Route: 042
     Dates: start: 20190906, end: 20210409
  42. PERJETA [Suspect]
     Active Substance: PERTUZUMAB
     Indication: HER2 positive breast cancer
     Dosage: 840 MG, TIW
     Route: 042
     Dates: start: 20161020, end: 20161020
  43. PERJETA [Suspect]
     Active Substance: PERTUZUMAB
     Dosage: 840.000MG TIW
     Route: 042
     Dates: start: 20170112, end: 20170112
  44. PERTUZUMAB [Suspect]
     Active Substance: PERTUZUMAB
     Indication: Breast cancer metastatic
     Dosage: 840 MG, TIW (MOST RECENT DOSE PRIOR TO THE EVENT: 02 FEB 2017, 27 FEB 2017)
     Route: 042
     Dates: start: 20161020
  45. PERTUZUMAB [Suspect]
     Active Substance: PERTUZUMAB
     Indication: HER2 positive breast cancer
     Dosage: 420 MG, ONCE EVERY 3 WK
     Route: 042
     Dates: start: 20190906, end: 20210409
  46. PERTUZUMAB [Suspect]
     Active Substance: PERTUZUMAB
     Dosage: 420 MG, ONCE EVERY 3 WK
     Route: 042
     Dates: start: 20170202, end: 20180108
  47. PERTUZUMAB [Suspect]
     Active Substance: PERTUZUMAB
     Route: 042
     Dates: start: 20170202, end: 20180108
  48. PERTUZUMAB [Suspect]
     Active Substance: PERTUZUMAB
     Route: 042
     Dates: start: 20170227, end: 20180108
  49. PERTUZUMAB [Suspect]
     Active Substance: PERTUZUMAB
     Route: 042
     Dates: start: 20190906, end: 20210409
  50. PERTUZUMAB [Suspect]
     Active Substance: PERTUZUMAB
     Dosage: 840 MG, ONCE EVERY 3 WK
     Route: 042
     Dates: start: 20161020, end: 20161020
  51. PERTUZUMAB [Suspect]
     Active Substance: PERTUZUMAB
     Dosage: 840 MG, ONCE EVERY 3 WK
     Route: 042
     Dates: start: 20170112, end: 20170112
  52. PERTUZUMAB [Suspect]
     Active Substance: PERTUZUMAB
     Route: 042
     Dates: start: 20161020, end: 20161020
  53. PERTUZUMAB [Suspect]
     Active Substance: PERTUZUMAB
     Route: 042
     Dates: start: 20170112, end: 20170112
  54. TAXOTERE [Suspect]
     Active Substance: DOCETAXEL
     Dosage: 100 MG/M2, TIW
     Route: 042
     Dates: start: 20161201, end: 20170202
  55. TAXOTERE [Suspect]
     Active Substance: DOCETAXEL
     Indication: HER2 positive breast cancer
     Dosage: 75 MG/M2, TIW
     Route: 042
     Dates: start: 20161111, end: 20161111
  56. TAXOTERE [Suspect]
     Active Substance: DOCETAXEL
     Dosage: 75 MG/M2, TIW
     Route: 042
     Dates: start: 20161020, end: 20161020
  57. TRASTUZUMAB [Suspect]
     Active Substance: TRASTUZUMAB
     Indication: Breast cancer metastatic
     Dosage: 8 MG/KG, TIW (MOST RECENT DOSE PRIOR TO THE EVENT: 02 FEB 2017, 27 FEB 2017)
     Route: 042
     Dates: start: 20161020
  58. TRASTUZUMAB [Suspect]
     Active Substance: TRASTUZUMAB
     Indication: Prophylaxis
     Route: 065
     Dates: start: 20161201
  59. TRASTUZUMAB [Suspect]
     Active Substance: TRASTUZUMAB
     Dosage: 6 MG/KG, ONCE EVERY 3 WK
     Route: 042
     Dates: start: 20190906
  60. TUKYSA [Suspect]
     Active Substance: TUCATINIB
     Indication: HER2 positive breast cancer
     Dosage: 300.000MG
     Route: 048
     Dates: start: 20210430, end: 20210927
  61. TUKYSA [Suspect]
     Active Substance: TUCATINIB
     Dosage: 300.000MG
     Route: 048
     Dates: start: 20210929, end: 20221023
  62. XELODA [Suspect]
     Active Substance: CAPECITABINE
     Route: 048
     Dates: start: 20210904, end: 20210927
  63. XELODA [Suspect]
     Active Substance: CAPECITABINE
     Route: 048
     Dates: start: 20210929, end: 20220114
  64. XELODA [Suspect]
     Active Substance: CAPECITABINE
     Route: 048
     Dates: start: 20220204, end: 20220930
  65. XELODA [Suspect]
     Active Substance: CAPECITABINE
     Indication: HER2 positive breast cancer
     Route: 048
     Dates: start: 20210430, end: 20210903
  66. XELODA [Suspect]
     Active Substance: CAPECITABINE
     Route: 048
     Dates: start: 20220930, end: 20221024
  67. AMOXICILLIN\CLAVULANATE POTASSIUM [Concomitant]
     Active Substance: AMOXICILLIN\CLAVULANATE POTASSIUM
     Indication: Product used for unknown indication
     Route: 065
  68. AMOXICILLIN\CLAVULANATE POTASSIUM [Concomitant]
     Active Substance: AMOXICILLIN\CLAVULANATE POTASSIUM
     Route: 065
  69. AMOXICILLIN\CLAVULANATE POTASSIUM [Concomitant]
     Active Substance: AMOXICILLIN\CLAVULANATE POTASSIUM
     Route: 065
  70. AMOXICILLIN\CLAVULANATE POTASSIUM [Concomitant]
     Active Substance: AMOXICILLIN\CLAVULANATE POTASSIUM
     Route: 065
  71. AMOXICILLIN\CLAVULANATE POTASSIUM [Concomitant]
     Active Substance: AMOXICILLIN\CLAVULANATE POTASSIUM
     Route: 065
  72. AMOXICILLIN\CLAVULANATE POTASSIUM [Concomitant]
     Active Substance: AMOXICILLIN\CLAVULANATE POTASSIUM
     Route: 065
  73. APREPITANT [Concomitant]
     Active Substance: APREPITANT
     Indication: Nausea
     Route: 065
     Dates: start: 20221123
  74. APREPITANT [Concomitant]
     Active Substance: APREPITANT
     Route: 065
     Dates: start: 20221202
  75. ARANESP [Concomitant]
     Active Substance: DARBEPOETIN ALFA
     Route: 065
     Dates: start: 20161201, end: 201701
  76. ARANESP [Concomitant]
     Active Substance: DARBEPOETIN ALFA
     Route: 065
     Dates: start: 20161201, end: 201701
  77. ARANESP [Concomitant]
     Active Substance: DARBEPOETIN ALFA
     Route: 065
     Dates: start: 20161201, end: 201701
  78. ARANESP [Concomitant]
     Active Substance: DARBEPOETIN ALFA
     Route: 065
     Dates: start: 20161201, end: 201701
  79. ARANESP [Concomitant]
     Active Substance: DARBEPOETIN ALFA
     Route: 065
     Dates: start: 20161201, end: 201701
  80. ARANESP [Concomitant]
     Active Substance: DARBEPOETIN ALFA
     Route: 065
     Dates: start: 20161201, end: 201701
  81. ARANESP [Concomitant]
     Active Substance: DARBEPOETIN ALFA
     Indication: Anaemia prophylaxis
     Route: 065
  82. ARANESP [Concomitant]
     Active Substance: DARBEPOETIN ALFA
     Indication: Product used for unknown indication
     Route: 065
  83. ARANESP [Concomitant]
     Active Substance: DARBEPOETIN ALFA
     Route: 065
  84. ARANESP [Concomitant]
     Active Substance: DARBEPOETIN ALFA
     Route: 065
  85. ARANESP [Concomitant]
     Active Substance: DARBEPOETIN ALFA
     Route: 065
  86. ARANESP [Concomitant]
     Active Substance: DARBEPOETIN ALFA
     Route: 065
  87. ARANESP [Concomitant]
     Active Substance: DARBEPOETIN ALFA
     Route: 065
  88. ARANESP [Concomitant]
     Active Substance: DARBEPOETIN ALFA
     Route: 065
  89. ARANESP [Concomitant]
     Active Substance: DARBEPOETIN ALFA
     Route: 065
  90. ARANESP [Concomitant]
     Active Substance: DARBEPOETIN ALFA
     Route: 065
  91. ARANESP [Concomitant]
     Active Substance: DARBEPOETIN ALFA
     Indication: Product used for unknown indication
     Route: 065
  92. CALCIUM CARBONATE\CHOLECALCIFEROL [Concomitant]
     Active Substance: CALCIUM CARBONATE\CHOLECALCIFEROL
     Route: 065
     Dates: start: 20161112
  93. CALCIUM CARBONATE\CHOLECALCIFEROL [Concomitant]
     Active Substance: CALCIUM CARBONATE\CHOLECALCIFEROL
     Route: 065
     Dates: start: 20161112
  94. CALCIUM CARBONATE\CHOLECALCIFEROL [Concomitant]
     Active Substance: CALCIUM CARBONATE\CHOLECALCIFEROL
     Indication: Product used for unknown indication
     Route: 065
     Dates: start: 20161112
  95. CALCIUM CARBONATE\CHOLECALCIFEROL [Concomitant]
     Active Substance: CALCIUM CARBONATE\CHOLECALCIFEROL
     Route: 065
     Dates: start: 20161112
  96. CALCIUM CARBONATE\CHOLECALCIFEROL [Concomitant]
     Active Substance: CALCIUM CARBONATE\CHOLECALCIFEROL
     Route: 065
     Dates: start: 20161112
  97. CALCIUM CARBONATE\CHOLECALCIFEROL [Concomitant]
     Active Substance: CALCIUM CARBONATE\CHOLECALCIFEROL
     Route: 065
     Dates: start: 20161112
  98. CALCIUM CARBONATE\CHOLECALCIFEROL [Concomitant]
     Active Substance: CALCIUM CARBONATE\CHOLECALCIFEROL
     Route: 065
     Dates: start: 20161112
  99. CALCIUM CARBONATE\CHOLECALCIFEROL [Concomitant]
     Active Substance: CALCIUM CARBONATE\CHOLECALCIFEROL
     Route: 065
     Dates: start: 20161112
  100. CALCIUM CARBONATE\CHOLECALCIFEROL [Concomitant]
     Active Substance: CALCIUM CARBONATE\CHOLECALCIFEROL
     Route: 065
     Dates: start: 20161112
  101. CALCIUM CARBONATE\CHOLECALCIFEROL [Concomitant]
     Active Substance: CALCIUM CARBONATE\CHOLECALCIFEROL
     Route: 065
     Dates: start: 20161112
  102. CALCIUM CARBONATE\CHOLECALCIFEROL [Concomitant]
     Active Substance: CALCIUM CARBONATE\CHOLECALCIFEROL
     Route: 065
     Dates: start: 20161112
  103. CALCIUM CARBONATE\CHOLECALCIFEROL [Concomitant]
     Active Substance: CALCIUM CARBONATE\CHOLECALCIFEROL
     Route: 065
     Dates: start: 20161112
  104. CALCIUM CARBONATE\CHOLECALCIFEROL [Concomitant]
     Active Substance: CALCIUM CARBONATE\CHOLECALCIFEROL
     Route: 065
     Dates: start: 20161112
  105. CALCIUM CARBONATE\CHOLECALCIFEROL [Concomitant]
     Active Substance: CALCIUM CARBONATE\CHOLECALCIFEROL
     Route: 065
     Dates: start: 20161112
  106. CALCIUM CARBONATE\CHOLECALCIFEROL [Concomitant]
     Active Substance: CALCIUM CARBONATE\CHOLECALCIFEROL
     Route: 065
     Dates: start: 20161112
  107. CALCIUM CARBONATE\CHOLECALCIFEROL [Concomitant]
     Active Substance: CALCIUM CARBONATE\CHOLECALCIFEROL
     Route: 065
     Dates: start: 20161112
  108. CALCIUM CARBONATE\CHOLECALCIFEROL [Concomitant]
     Active Substance: CALCIUM CARBONATE\CHOLECALCIFEROL
     Route: 065
     Dates: start: 20161112
  109. CALCIUM CARBONATE\CHOLECALCIFEROL [Concomitant]
     Active Substance: CALCIUM CARBONATE\CHOLECALCIFEROL
     Route: 065
     Dates: start: 20161112
  110. CALCIUM CARBONATE\CHOLECALCIFEROL [Concomitant]
     Active Substance: CALCIUM CARBONATE\CHOLECALCIFEROL
     Route: 065
     Dates: start: 20161112
  111. CALCIUM CARBONATE\CHOLECALCIFEROL [Concomitant]
     Active Substance: CALCIUM CARBONATE\CHOLECALCIFEROL
     Route: 065
     Dates: start: 20161112
  112. CALCIUM CARBONATE\CHOLECALCIFEROL [Concomitant]
     Active Substance: CALCIUM CARBONATE\CHOLECALCIFEROL
     Route: 065
     Dates: start: 20161112
  113. CALCIUM CARBONATE\CHOLECALCIFEROL [Concomitant]
     Active Substance: CALCIUM CARBONATE\CHOLECALCIFEROL
     Route: 065
     Dates: start: 20161112
  114. CALCIUM CARBONATE\CHOLECALCIFEROL [Concomitant]
     Active Substance: CALCIUM CARBONATE\CHOLECALCIFEROL
     Route: 065
     Dates: start: 20161112
  115. CALCIUM CARBONATE\CHOLECALCIFEROL [Concomitant]
     Active Substance: CALCIUM CARBONATE\CHOLECALCIFEROL
     Route: 065
     Dates: start: 20161112
  116. CALCIUM CARBONATE\VITAMIN D [Concomitant]
     Active Substance: CALCIUM CARBONATE\VITAMIN D
     Indication: Prophylaxis
     Dosage: 1 DOSAGE FORM, BID
     Route: 065
     Dates: start: 20161112
  117. Ceolat [Concomitant]
     Route: 042
     Dates: start: 20161113
  118. Ceolat [Concomitant]
     Indication: Nausea
     Route: 065
  119. Ceolat [Concomitant]
     Indication: Product used for unknown indication
     Route: 065
  120. Ceolat [Concomitant]
     Route: 065
  121. Ceolat [Concomitant]
     Route: 065
  122. Ceolat [Concomitant]
     Route: 065
  123. Ceolat [Concomitant]
     Route: 065
  124. Ceolat [Concomitant]
     Route: 065
  125. Ceolat [Concomitant]
     Indication: Product used for unknown indication
     Route: 065
  126. CERNEVIT [Concomitant]
     Active Substance: VITAMINS
     Indication: Product used for unknown indication
     Route: 065
  127. AMOXICILLIN\CLAVULANATE POTASSIUM [Concomitant]
     Active Substance: AMOXICILLIN\CLAVULANATE POTASSIUM
     Indication: Product used for unknown indication
     Route: 065
  128. BISOPROLOL FUMARATE [Concomitant]
     Active Substance: BISOPROLOL FUMARATE
     Dosage: 1.25 MG, QD
     Route: 048
     Dates: start: 20161117, end: 20170226
  129. BISOPROLOL FUMARATE [Concomitant]
     Active Substance: BISOPROLOL FUMARATE
     Dosage: 2.5 MG, BID
     Route: 048
     Dates: start: 20170227
  130. BISOPROLOL FUMARATE [Concomitant]
     Active Substance: BISOPROLOL FUMARATE
     Route: 065
     Dates: start: 20170227
  131. BISOPROLOL FUMARATE [Concomitant]
     Active Substance: BISOPROLOL FUMARATE
     Route: 065
     Dates: start: 20170227
  132. BISOPROLOL FUMARATE [Concomitant]
     Active Substance: BISOPROLOL FUMARATE
     Route: 065
     Dates: start: 20170227
  133. BISOPROLOL FUMARATE [Concomitant]
     Active Substance: BISOPROLOL FUMARATE
     Route: 065
     Dates: start: 20170227
  134. BISOPROLOL FUMARATE [Concomitant]
     Active Substance: BISOPROLOL FUMARATE
     Route: 065
     Dates: start: 20170227
  135. BISOPROLOL FUMARATE [Concomitant]
     Active Substance: BISOPROLOL FUMARATE
     Indication: Product used for unknown indication
     Route: 065
     Dates: start: 20170227
  136. BISOPROLOL FUMARATE [Concomitant]
     Active Substance: BISOPROLOL FUMARATE
     Route: 065
     Dates: start: 20170227
  137. BISOPROLOL FUMARATE [Concomitant]
     Active Substance: BISOPROLOL FUMARATE
     Route: 065
     Dates: start: 20170227
  138. BISOPROLOL FUMARATE [Concomitant]
     Active Substance: BISOPROLOL FUMARATE
     Route: 065
     Dates: start: 20170227
  139. BISOPROLOL FUMARATE [Concomitant]
     Active Substance: BISOPROLOL FUMARATE
     Route: 065
     Dates: start: 20170227
  140. BISOPROLOL FUMARATE [Concomitant]
     Active Substance: BISOPROLOL FUMARATE
     Route: 065
     Dates: start: 20170227
  141. BISOPROLOL FUMARATE [Concomitant]
     Active Substance: BISOPROLOL FUMARATE
     Route: 065
     Dates: start: 20170227
  142. BISOPROLOL FUMARATE [Concomitant]
     Active Substance: BISOPROLOL FUMARATE
     Route: 065
     Dates: start: 20170227
  143. BISOPROLOL FUMARATE [Concomitant]
     Active Substance: BISOPROLOL FUMARATE
     Route: 065
     Dates: start: 20170227
  144. BISOPROLOL FUMARATE [Concomitant]
     Active Substance: BISOPROLOL FUMARATE
     Route: 065
     Dates: start: 20170227
  145. BISOPROLOL FUMARATE [Concomitant]
     Active Substance: BISOPROLOL FUMARATE
     Route: 065
     Dates: start: 20170227
  146. BISOPROLOL FUMARATE [Concomitant]
     Active Substance: BISOPROLOL FUMARATE
     Route: 065
     Dates: start: 20170227
  147. BISOPROLOL FUMARATE [Concomitant]
     Active Substance: BISOPROLOL FUMARATE
     Route: 065
     Dates: start: 20170227
  148. BISOPROLOL FUMARATE [Concomitant]
     Active Substance: BISOPROLOL FUMARATE
     Route: 065
     Dates: start: 20170227
  149. BISOPROLOL FUMARATE [Concomitant]
     Active Substance: BISOPROLOL FUMARATE
     Route: 065
     Dates: start: 20170227
  150. BISOPROLOL FUMARATE [Concomitant]
     Active Substance: BISOPROLOL FUMARATE
     Route: 065
     Dates: start: 20170227
  151. BISOPROLOL FUMARATE [Concomitant]
     Active Substance: BISOPROLOL FUMARATE
     Route: 065
     Dates: start: 20170227
  152. BISOPROLOL FUMARATE [Concomitant]
     Active Substance: BISOPROLOL FUMARATE
     Route: 065
     Dates: start: 20170227
  153. BISOPROLOL FUMARATE [Concomitant]
     Active Substance: BISOPROLOL FUMARATE
     Route: 065
     Dates: start: 20170227
  154. DEXAMETHASONE [Concomitant]
     Active Substance: DEXAMETHASONE
     Route: 065
     Dates: start: 20221123, end: 20221215
  155. DEXAMETHASONE [Concomitant]
     Active Substance: DEXAMETHASONE
     Dosage: 8 MG, QD
     Route: 048
     Dates: start: 20180817, end: 20180831
  156. DEXAMETHASONE [Concomitant]
     Active Substance: DEXAMETHASONE
     Dosage: 8 MG, QD
     Route: 065
     Dates: start: 20180117, end: 20180122
  157. DEXAMETHASONE [Concomitant]
     Active Substance: DEXAMETHASONE
     Indication: Headache
     Dosage: 8 MG, BID
     Route: 048
     Dates: start: 20180117, end: 20180122
  158. DEXAMETHASONE [Concomitant]
     Active Substance: DEXAMETHASONE
     Indication: Prophylaxis
     Dosage: 8 MG, BID
     Route: 048
     Dates: start: 20161202, end: 20161203
  159. FENTANYL [Concomitant]
     Active Substance: FENTANYL
     Dosage: 25 UG, QD
     Route: 062
     Dates: start: 201706
  160. FENTANYL [Concomitant]
     Active Substance: FENTANYL
     Dosage: 25 UG, QD
     Route: 062
     Dates: start: 201706
  161. FENTANYL [Concomitant]
     Active Substance: FENTANYL
     Dosage: 25 UG, QD
     Route: 065
     Dates: start: 201706
  162. FENTANYL [Concomitant]
     Active Substance: FENTANYL
     Dosage: 25 UG, QD
     Route: 065
     Dates: start: 201706
  163. FENTANYL [Concomitant]
     Active Substance: FENTANYL
     Dosage: 75 UG, QD
     Route: 062
     Dates: start: 201706
  164. FENTANYL [Concomitant]
     Active Substance: FENTANYL
     Dosage: 75 UG, QD
     Route: 062
     Dates: start: 201706
  165. FENTANYL [Concomitant]
     Active Substance: FENTANYL
     Dosage: 75 UG, QD
     Route: 065
     Dates: start: 201706
  166. FENTANYL [Concomitant]
     Active Substance: FENTANYL
     Dosage: 75 UG, QD
     Route: 065
     Dates: start: 201706
  167. FENTANYL [Concomitant]
     Active Substance: FENTANYL
     Indication: Pain prophylaxis
     Route: 065
  168. FENTANYL [Concomitant]
     Active Substance: FENTANYL
     Indication: Product used for unknown indication
     Route: 065
  169. FENTANYL [Concomitant]
     Active Substance: FENTANYL
     Route: 065
  170. FENTANYL [Concomitant]
     Active Substance: FENTANYL
     Route: 065
  171. FENTANYL [Concomitant]
     Active Substance: FENTANYL
     Route: 065
  172. FENTANYL [Concomitant]
     Active Substance: FENTANYL
     Route: 065
  173. FENTANYL [Concomitant]
     Active Substance: FENTANYL
     Route: 065
  174. FENTANYL [Concomitant]
     Active Substance: FENTANYL
     Indication: Product used for unknown indication
     Route: 065
  175. ESOMEPRAZOLE [Concomitant]
     Active Substance: ESOMEPRAZOLE
     Indication: Product used for unknown indication
     Route: 065
     Dates: start: 20221123
  176. EMEND [Concomitant]
     Active Substance: APREPITANT
     Indication: Nausea
     Route: 065
     Dates: start: 20221202
  177. ESOMEPRAZOLE [Concomitant]
     Active Substance: ESOMEPRAZOLE
     Indication: Product used for unknown indication
     Route: 065
     Dates: start: 20221123
  178. ESOMEPRAZOLE [Concomitant]
     Active Substance: ESOMEPRAZOLE
     Route: 065
     Dates: start: 20221123
  179. ESOMEPRAZOLE [Concomitant]
     Active Substance: ESOMEPRAZOLE
     Route: 065
     Dates: start: 20221123
  180. ESOMEPRAZOLE [Concomitant]
     Active Substance: ESOMEPRAZOLE
     Route: 065
     Dates: start: 20221123
  181. ESOMEPRAZOLE [Concomitant]
     Active Substance: ESOMEPRAZOLE
     Route: 065
     Dates: start: 20221123
  182. ESOMEPRAZOLE [Concomitant]
     Active Substance: ESOMEPRAZOLE
     Indication: Product used for unknown indication
     Route: 065
     Dates: start: 20221123
  183. ESOMEPRAZOLE [Concomitant]
     Active Substance: ESOMEPRAZOLE
     Route: 065
     Dates: start: 20221123
  184. ESOMEPRAZOLE [Concomitant]
     Active Substance: ESOMEPRAZOLE
     Route: 065
     Dates: start: 20221123
  185. ESOMEPRAZOLE [Concomitant]
     Active Substance: ESOMEPRAZOLE
     Route: 065
     Dates: start: 20221123
  186. ESOMEPRAZOLE [Concomitant]
     Active Substance: ESOMEPRAZOLE
     Route: 065
     Dates: start: 20221123
  187. ESOMEPRAZOLE [Concomitant]
     Active Substance: ESOMEPRAZOLE
     Route: 065
     Dates: start: 20221123
  188. ESOMEPRAZOLE [Concomitant]
     Active Substance: ESOMEPRAZOLE
     Route: 065
     Dates: start: 20221123
  189. ESOMEPRAZOLE [Concomitant]
     Active Substance: ESOMEPRAZOLE
     Route: 065
     Dates: start: 20221123
  190. ESOMEPRAZOLE [Concomitant]
     Active Substance: ESOMEPRAZOLE
     Route: 065
     Dates: start: 20221123
  191. ESOMEPRAZOLE [Concomitant]
     Active Substance: ESOMEPRAZOLE
     Route: 065
     Dates: start: 20221123
  192. ESOMEPRAZOLE [Concomitant]
     Active Substance: ESOMEPRAZOLE
     Route: 065
     Dates: start: 20221123
  193. ESOMEPRAZOLE [Concomitant]
     Active Substance: ESOMEPRAZOLE
     Route: 065
     Dates: start: 20221123
  194. ESOMEPRAZOLE [Concomitant]
     Active Substance: ESOMEPRAZOLE
     Route: 065
     Dates: start: 20221123
  195. ESOMEPRAZOLE [Concomitant]
     Active Substance: ESOMEPRAZOLE
     Route: 065
     Dates: start: 20221123
  196. ESOMEPRAZOLE [Concomitant]
     Active Substance: ESOMEPRAZOLE
     Route: 065
     Dates: start: 20221123
  197. ESOMEPRAZOLE [Concomitant]
     Active Substance: ESOMEPRAZOLE
     Route: 065
     Dates: start: 20221123
  198. ESOMEPRAZOLE [Concomitant]
     Active Substance: ESOMEPRAZOLE
     Route: 065
     Dates: start: 20221123
  199. ESOMEPRAZOLE [Concomitant]
     Active Substance: ESOMEPRAZOLE
     Route: 065
     Dates: start: 20221123
  200. DEXAMETHASONE [Concomitant]
     Active Substance: DEXAMETHASONE
     Indication: Product used for unknown indication
     Route: 065
  201. CLOBAZAM [Concomitant]
     Active Substance: CLOBAZAM
     Route: 065
     Dates: start: 20220201
  202. CLOBAZAM [Concomitant]
     Active Substance: CLOBAZAM
     Route: 065
     Dates: start: 20220201
  203. CLOBAZAM [Concomitant]
     Active Substance: CLOBAZAM
     Indication: Epilepsy
     Route: 065
  204. CLOBAZAM [Concomitant]
     Active Substance: CLOBAZAM
     Indication: Product used for unknown indication
     Route: 065
  205. CLOBAZAM [Concomitant]
     Active Substance: CLOBAZAM
     Route: 065
  206. CLOBAZAM [Concomitant]
     Active Substance: CLOBAZAM
     Route: 065
  207. CLOBAZAM [Concomitant]
     Active Substance: CLOBAZAM
     Route: 065
  208. CLOBAZAM [Concomitant]
     Active Substance: CLOBAZAM
     Route: 065
  209. CLOBAZAM [Concomitant]
     Active Substance: CLOBAZAM
     Route: 065
  210. CLOBAZAM [Concomitant]
     Active Substance: CLOBAZAM
     Indication: Product used for unknown indication
     Route: 065
  211. SERTRALINE HYDROCHLORIDE [Concomitant]
     Active Substance: SERTRALINE HYDROCHLORIDE
     Route: 065
     Dates: start: 201710
  212. SERTRALINE HYDROCHLORIDE [Concomitant]
     Active Substance: SERTRALINE HYDROCHLORIDE
     Route: 065
     Dates: start: 201710
  213. SERTRALINE HYDROCHLORIDE [Concomitant]
     Active Substance: SERTRALINE HYDROCHLORIDE
     Route: 048
     Dates: start: 20171016
  214. SERTRALINE HYDROCHLORIDE [Concomitant]
     Active Substance: SERTRALINE HYDROCHLORIDE
     Route: 048
     Dates: start: 20230714
  215. SERTRALINE HYDROCHLORIDE [Concomitant]
     Active Substance: SERTRALINE HYDROCHLORIDE
     Indication: Depression
     Route: 065
  216. SERTRALINE HYDROCHLORIDE [Concomitant]
     Active Substance: SERTRALINE HYDROCHLORIDE
     Indication: Product used for unknown indication
     Route: 065
     Dates: end: 20171015
  217. SERTRALINE HYDROCHLORIDE [Concomitant]
     Active Substance: SERTRALINE HYDROCHLORIDE
     Indication: Product used for unknown indication
     Route: 065
  218. SERTRALINE HYDROCHLORIDE [Concomitant]
     Active Substance: SERTRALINE HYDROCHLORIDE
     Route: 065
  219. SERTRALINE HYDROCHLORIDE [Concomitant]
     Active Substance: SERTRALINE HYDROCHLORIDE
     Route: 065
  220. SERTRALINE HYDROCHLORIDE [Concomitant]
     Active Substance: SERTRALINE HYDROCHLORIDE
     Route: 065
  221. SERTRALINE HYDROCHLORIDE [Concomitant]
     Active Substance: SERTRALINE HYDROCHLORIDE
     Route: 065
     Dates: start: 20171016
  222. SERTRALINE HYDROCHLORIDE [Concomitant]
     Active Substance: SERTRALINE HYDROCHLORIDE
     Route: 065
     Dates: start: 20171016
  223. SERTRALINE HYDROCHLORIDE [Concomitant]
     Active Substance: SERTRALINE HYDROCHLORIDE
     Route: 065
     Dates: start: 20171016
  224. SERTRALINE HYDROCHLORIDE [Concomitant]
     Active Substance: SERTRALINE HYDROCHLORIDE
     Route: 065
     Dates: start: 20171016
  225. SERTRALINE HYDROCHLORIDE [Concomitant]
     Active Substance: SERTRALINE HYDROCHLORIDE
     Route: 065
     Dates: start: 20171016
  226. SERTRALINE HYDROCHLORIDE [Concomitant]
     Active Substance: SERTRALINE HYDROCHLORIDE
     Route: 065
     Dates: start: 20171016
  227. SERTRALINE HYDROCHLORIDE [Concomitant]
     Active Substance: SERTRALINE HYDROCHLORIDE
     Route: 065
     Dates: start: 20171016
  228. Glandomed [Concomitant]
     Indication: Product used for unknown indication
     Route: 065
  229. Glandomed [Concomitant]
     Indication: Product used for unknown indication
     Route: 065
  230. Glandomed [Concomitant]
     Route: 065
  231. Glandomed [Concomitant]
     Route: 065
  232. Glandomed [Concomitant]
     Route: 065
  233. Glandomed [Concomitant]
     Route: 065
  234. Glandomed [Concomitant]
     Route: 065
  235. Glandomed [Concomitant]
     Route: 065
  236. Glandomed [Concomitant]
     Route: 065
  237. Glandomed [Concomitant]
     Route: 061
     Dates: start: 20161208, end: 20161222
  238. Glandomed [Concomitant]
     Route: 065
     Dates: start: 20161208, end: 20161222
  239. Glandomed [Concomitant]
     Route: 065
     Dates: start: 20161208, end: 20161222
  240. Glandomed [Concomitant]
     Route: 065
     Dates: start: 20161208, end: 20161222
  241. HALCION [Concomitant]
     Active Substance: TRIAZOLAM
     Route: 048
     Dates: start: 20201120
  242. HALCION [Concomitant]
     Active Substance: TRIAZOLAM
     Route: 048
     Dates: start: 20201120
  243. HALCION [Concomitant]
     Active Substance: TRIAZOLAM
     Route: 048
     Dates: start: 2016, end: 201610
  244. HALCION [Concomitant]
     Active Substance: TRIAZOLAM
     Route: 048
     Dates: start: 2016, end: 201610
  245. HALCION [Concomitant]
     Active Substance: TRIAZOLAM
     Route: 048
     Dates: start: 201610
  246. HALCION [Concomitant]
     Active Substance: TRIAZOLAM
     Route: 048
     Dates: start: 201610
  247. HALCION [Concomitant]
     Active Substance: TRIAZOLAM
     Indication: Product used for unknown indication
     Route: 065
  248. HALCION [Concomitant]
     Active Substance: TRIAZOLAM
     Indication: Sleep disorder
     Route: 065
  249. HALCION [Concomitant]
     Active Substance: TRIAZOLAM
     Indication: Sleep disorder
     Route: 065
  250. HALCION [Concomitant]
     Active Substance: TRIAZOLAM
     Route: 065
     Dates: start: 20201120
  251. HALCION [Concomitant]
     Active Substance: TRIAZOLAM
     Route: 065
     Dates: start: 20201120
  252. HALCION [Concomitant]
     Active Substance: TRIAZOLAM
     Route: 065
     Dates: start: 2016, end: 201610
  253. HALCION [Concomitant]
     Active Substance: TRIAZOLAM
     Route: 065
     Dates: start: 2016, end: 201610
  254. HALCION [Concomitant]
     Active Substance: TRIAZOLAM
     Route: 065
     Dates: start: 201610
  255. HALCION [Concomitant]
     Active Substance: TRIAZOLAM
     Route: 065
     Dates: start: 201610
  256. HALCION [Concomitant]
     Active Substance: TRIAZOLAM
     Route: 065
  257. HALCION [Concomitant]
     Active Substance: TRIAZOLAM
     Route: 065
  258. HALCION [Concomitant]
     Active Substance: TRIAZOLAM
     Indication: Product used for unknown indication
     Route: 065
  259. HALDOL [Concomitant]
     Active Substance: HALOPERIDOL
     Indication: Product used for unknown indication
     Route: 065
  260. HALDOL [Concomitant]
     Active Substance: HALOPERIDOL
     Route: 065
  261. HALDOL [Concomitant]
     Active Substance: HALOPERIDOL
     Indication: Product used for unknown indication
     Route: 065
  262. HYDROMORPHONE HYDROCHLORIDE [Concomitant]
     Active Substance: HYDROMORPHONE HYDROCHLORIDE
     Dosage: 1.3 MG, BID
     Route: 048
     Dates: start: 201706, end: 20210309
  263. HYDROMORPHONE HYDROCHLORIDE [Concomitant]
     Active Substance: HYDROMORPHONE HYDROCHLORIDE
     Route: 065
     Dates: start: 201706, end: 20210309
  264. HYDROMORPHONE HYDROCHLORIDE [Concomitant]
     Active Substance: HYDROMORPHONE HYDROCHLORIDE
     Route: 065
     Dates: start: 201706, end: 20210309
  265. HYDROMORPHONE HYDROCHLORIDE [Concomitant]
     Active Substance: HYDROMORPHONE HYDROCHLORIDE
     Dosage: 2 MG, BID
     Route: 048
     Dates: start: 20210326, end: 20210409
  266. HYDROMORPHONE HYDROCHLORIDE [Concomitant]
     Active Substance: HYDROMORPHONE HYDROCHLORIDE
     Dosage: 2 MG, BID
     Route: 065
     Dates: start: 20210326, end: 20210409
  267. HYDROMORPHONE HYDROCHLORIDE [Concomitant]
     Active Substance: HYDROMORPHONE HYDROCHLORIDE
     Dosage: 2 MG, BID
     Route: 065
     Dates: start: 20210326, end: 20210409
  268. HYDROMORPHONE HYDROCHLORIDE [Concomitant]
     Active Substance: HYDROMORPHONE HYDROCHLORIDE
     Route: 048
     Dates: start: 20190816, end: 20210326
  269. HYDROMORPHONE HYDROCHLORIDE [Concomitant]
     Active Substance: HYDROMORPHONE HYDROCHLORIDE
     Route: 065
     Dates: start: 20190816, end: 20210326
  270. HYDROMORPHONE HYDROCHLORIDE [Concomitant]
     Active Substance: HYDROMORPHONE HYDROCHLORIDE
     Route: 065
     Dates: start: 20190816, end: 20210326
  271. HYDROMORPHONE HYDROCHLORIDE [Concomitant]
     Active Substance: HYDROMORPHONE HYDROCHLORIDE
     Dosage: 4 MG, BID
     Route: 048
     Dates: start: 20210410
  272. HYDROMORPHONE HYDROCHLORIDE [Concomitant]
     Active Substance: HYDROMORPHONE HYDROCHLORIDE
     Dosage: 4 MG, BID
     Route: 065
     Dates: start: 20210410
  273. HYDROMORPHONE HYDROCHLORIDE [Concomitant]
     Active Substance: HYDROMORPHONE HYDROCHLORIDE
     Dosage: 4 MG, BID
     Route: 065
     Dates: start: 20210410
  274. HYDROMORPHONE HYDROCHLORIDE [Concomitant]
     Active Substance: HYDROMORPHONE HYDROCHLORIDE
     Route: 065
     Dates: start: 20210309
  275. HYDROMORPHONE HYDROCHLORIDE [Concomitant]
     Active Substance: HYDROMORPHONE HYDROCHLORIDE
     Route: 065
     Dates: start: 20210309
  276. HYDROMORPHONE HYDROCHLORIDE [Concomitant]
     Active Substance: HYDROMORPHONE HYDROCHLORIDE
     Route: 065
     Dates: start: 20210410
  277. HYDROMORPHONE HYDROCHLORIDE [Concomitant]
     Active Substance: HYDROMORPHONE HYDROCHLORIDE
     Route: 065
     Dates: start: 20210410
  278. HYDROMORPHONE HYDROCHLORIDE [Concomitant]
     Active Substance: HYDROMORPHONE HYDROCHLORIDE
     Indication: Pain prophylaxis
     Route: 065
     Dates: start: 20210410
  279. HYDROMORPHONE HYDROCHLORIDE [Concomitant]
     Active Substance: HYDROMORPHONE HYDROCHLORIDE
     Indication: Product used for unknown indication
     Route: 065
     Dates: start: 20210410
  280. HYDROMORPHONE HYDROCHLORIDE [Concomitant]
     Active Substance: HYDROMORPHONE HYDROCHLORIDE
     Indication: Product used for unknown indication
     Route: 065
     Dates: start: 20210410
  281. HYDROMORPHONE HYDROCHLORIDE [Concomitant]
     Active Substance: HYDROMORPHONE HYDROCHLORIDE
     Route: 065
     Dates: start: 20210410
  282. HYDROMORPHONE HYDROCHLORIDE [Concomitant]
     Active Substance: HYDROMORPHONE HYDROCHLORIDE
     Route: 065
     Dates: start: 20210410
  283. HYDROMORPHONE HYDROCHLORIDE [Concomitant]
     Active Substance: HYDROMORPHONE HYDROCHLORIDE
     Route: 065
     Dates: start: 20210410
  284. HYDROMORPHONE HYDROCHLORIDE [Concomitant]
     Active Substance: HYDROMORPHONE HYDROCHLORIDE
     Route: 065
     Dates: start: 20210410
  285. HYDROMORPHONE HYDROCHLORIDE [Concomitant]
     Active Substance: HYDROMORPHONE HYDROCHLORIDE
     Route: 065
     Dates: start: 20210410
  286. HYDROMORPHONE HYDROCHLORIDE [Concomitant]
     Active Substance: HYDROMORPHONE HYDROCHLORIDE
     Route: 065
     Dates: start: 20210410
  287. HYDROMORPHONE HYDROCHLORIDE [Concomitant]
     Active Substance: HYDROMORPHONE HYDROCHLORIDE
     Route: 065
     Dates: start: 20210410
  288. HYDROMORPHONE HYDROCHLORIDE [Concomitant]
     Active Substance: HYDROMORPHONE HYDROCHLORIDE
     Route: 065
     Dates: start: 20210410
  289. HYDROMORPHONE HYDROCHLORIDE [Concomitant]
     Active Substance: HYDROMORPHONE HYDROCHLORIDE
     Route: 065
     Dates: start: 20210410
  290. HYDROMORPHONE HYDROCHLORIDE [Concomitant]
     Active Substance: HYDROMORPHONE HYDROCHLORIDE
     Route: 065
     Dates: start: 20210410
  291. HYDROMORPHONE HYDROCHLORIDE [Concomitant]
     Active Substance: HYDROMORPHONE HYDROCHLORIDE
     Route: 065
     Dates: start: 20210410
  292. HYDROMORPHONE HYDROCHLORIDE [Concomitant]
     Active Substance: HYDROMORPHONE HYDROCHLORIDE
     Route: 065
     Dates: start: 20210410
  293. HYDROMORPHONE HYDROCHLORIDE [Concomitant]
     Active Substance: HYDROMORPHONE HYDROCHLORIDE
     Route: 065
     Dates: start: 20210410
  294. HYDROMORPHONE HYDROCHLORIDE [Concomitant]
     Active Substance: HYDROMORPHONE HYDROCHLORIDE
     Route: 065
     Dates: start: 20210410
  295. HYDROMORPHONE HYDROCHLORIDE [Concomitant]
     Active Substance: HYDROMORPHONE HYDROCHLORIDE
     Route: 065
     Dates: start: 20210410
  296. HYDROMORPHONE HYDROCHLORIDE [Concomitant]
     Active Substance: HYDROMORPHONE HYDROCHLORIDE
     Route: 065
     Dates: start: 20210410
  297. HYDROMORPHONE HYDROCHLORIDE [Concomitant]
     Active Substance: HYDROMORPHONE HYDROCHLORIDE
     Route: 065
     Dates: start: 20210410
  298. HYDROMORPHONE HYDROCHLORIDE [Concomitant]
     Active Substance: HYDROMORPHONE HYDROCHLORIDE
     Route: 065
     Dates: start: 20210410
  299. HYDROMORPHONE HYDROCHLORIDE [Concomitant]
     Active Substance: HYDROMORPHONE HYDROCHLORIDE
     Route: 065
     Dates: start: 20210410
  300. HYDROMORPHONE HYDROCHLORIDE [Concomitant]
     Active Substance: HYDROMORPHONE HYDROCHLORIDE
     Route: 065
     Dates: start: 20210410
  301. IBUPROFEN [Concomitant]
     Active Substance: IBUPROFEN
     Indication: Product used for unknown indication
     Route: 065
  302. IBUPROFEN [Concomitant]
     Active Substance: IBUPROFEN
     Route: 065
  303. IBUPROFEN [Concomitant]
     Active Substance: IBUPROFEN
     Route: 065
  304. IBUPROFEN [Concomitant]
     Active Substance: IBUPROFEN
     Route: 065
  305. IBUPROFEN [Concomitant]
     Active Substance: IBUPROFEN
     Route: 065
  306. IMODIUM [Concomitant]
     Active Substance: LOPERAMIDE HYDROCHLORIDE
     Route: 048
     Dates: start: 20171127
  307. IMODIUM [Concomitant]
     Active Substance: LOPERAMIDE HYDROCHLORIDE
     Route: 065
     Dates: start: 20171127
  308. IMODIUM [Concomitant]
     Active Substance: LOPERAMIDE HYDROCHLORIDE
     Route: 065
     Dates: start: 20171127
  309. IMODIUM [Concomitant]
     Active Substance: LOPERAMIDE HYDROCHLORIDE
     Route: 065
     Dates: start: 20171127
  310. IMODIUM [Concomitant]
     Active Substance: LOPERAMIDE HYDROCHLORIDE
     Route: 065
     Dates: start: 20171127
  311. IMODIUM [Concomitant]
     Active Substance: LOPERAMIDE HYDROCHLORIDE
     Indication: Diarrhoea
     Route: 065
     Dates: start: 20171127
  312. IMODIUM [Concomitant]
     Active Substance: LOPERAMIDE HYDROCHLORIDE
     Route: 065
     Dates: start: 20171127
  313. IMODIUM [Concomitant]
     Active Substance: LOPERAMIDE HYDROCHLORIDE
     Route: 065
     Dates: start: 20171127
  314. IMODIUM [Concomitant]
     Active Substance: LOPERAMIDE HYDROCHLORIDE
     Route: 065
     Dates: start: 20171127
  315. IMODIUM [Concomitant]
     Active Substance: LOPERAMIDE HYDROCHLORIDE
     Route: 065
     Dates: start: 20171127
  316. IMODIUM [Concomitant]
     Active Substance: LOPERAMIDE HYDROCHLORIDE
     Route: 065
     Dates: start: 20171127
  317. IMODIUM [Concomitant]
     Active Substance: LOPERAMIDE HYDROCHLORIDE
     Route: 065
     Dates: start: 20171127
  318. IMODIUM [Concomitant]
     Active Substance: LOPERAMIDE HYDROCHLORIDE
     Route: 065
     Dates: start: 20171127
  319. IMODIUM [Concomitant]
     Active Substance: LOPERAMIDE HYDROCHLORIDE
     Route: 065
     Dates: start: 20171127
  320. IMODIUM [Concomitant]
     Active Substance: LOPERAMIDE HYDROCHLORIDE
     Route: 065
     Dates: start: 20171127
  321. KCL [Concomitant]
     Active Substance: POTASSIUM CHLORIDE
     Indication: Prophylaxis
     Dosage: 1200 MG, BID (Q12H)
     Route: 048
     Dates: start: 20161117, end: 201702
  322. POTASSIUM CHLORIDE [Concomitant]
     Active Substance: POTASSIUM CHLORIDE
     Route: 065
  323. POTASSIUM CHLORIDE [Concomitant]
     Active Substance: POTASSIUM CHLORIDE
     Route: 065
  324. POTASSIUM CHLORIDE [Concomitant]
     Active Substance: POTASSIUM CHLORIDE
     Route: 065
  325. POTASSIUM CHLORIDE [Concomitant]
     Active Substance: POTASSIUM CHLORIDE
     Route: 065
  326. POTASSIUM CHLORIDE [Concomitant]
     Active Substance: POTASSIUM CHLORIDE
     Route: 065
  327. POTASSIUM CHLORIDE [Concomitant]
     Active Substance: POTASSIUM CHLORIDE
     Indication: Product used for unknown indication
     Route: 065
  328. LASIX [Concomitant]
     Active Substance: FUROSEMIDE
     Indication: Product used for unknown indication
     Route: 065
     Dates: start: 20180205
  329. LASIX [Concomitant]
     Active Substance: FUROSEMIDE
     Route: 065
     Dates: start: 20180205
  330. LASIX [Concomitant]
     Active Substance: FUROSEMIDE
     Indication: Product used for unknown indication
     Route: 065
  331. Laxagol [Concomitant]
     Indication: Product used for unknown indication
     Route: 065
  332. Laxagol [Concomitant]
     Route: 065
     Dates: start: 20170227
  333. Laxagol [Concomitant]
     Route: 065
     Dates: start: 20170227
  334. Laxagol [Concomitant]
     Route: 065
     Dates: start: 20170227
  335. Laxagol [Concomitant]
     Route: 065
     Dates: start: 20170227
  336. Laxagol [Concomitant]
     Route: 065
     Dates: start: 20201120
  337. Laxagol [Concomitant]
     Route: 065
     Dates: start: 20201120
  338. Laxagol [Concomitant]
     Route: 065
     Dates: start: 20201120
  339. Laxagol [Concomitant]
     Route: 065
     Dates: start: 20201120
  340. Laxagol [Concomitant]
     Route: 065
     Dates: start: 20201120
  341. Laxagol [Concomitant]
     Route: 065
     Dates: start: 20201120
  342. Laxagol [Concomitant]
     Route: 065
  343. Laxagol [Concomitant]
     Route: 065
  344. Laxagol [Concomitant]
     Route: 065
  345. Laxagol [Concomitant]
     Route: 065
  346. Laxagol [Concomitant]
     Route: 065
  347. Laxagol [Concomitant]
     Route: 065
  348. Laxagol [Concomitant]
     Route: 065
  349. Laxagol [Concomitant]
     Route: 065
  350. Laxagol [Concomitant]
     Route: 065
  351. Laxagol [Concomitant]
     Route: 065
  352. Laxagol [Concomitant]
     Route: 065
  353. Laxagol [Concomitant]
     Route: 065
  354. Laxagol [Concomitant]
     Route: 065
  355. Laxagol [Concomitant]
     Route: 065
  356. Laxagol [Concomitant]
     Route: 065
  357. Laxagol [Concomitant]
     Route: 065
  358. Laxagol [Concomitant]
     Route: 065
  359. Laxagol [Concomitant]
     Route: 065
  360. Laxagol [Concomitant]
     Indication: Product used for unknown indication
     Route: 065
  361. Laxagol [Concomitant]
     Route: 065
  362. Laxagol [Concomitant]
     Route: 065
  363. Laxagol [Concomitant]
     Route: 065
  364. Laxagol [Concomitant]
     Route: 065
  365. Laxagol [Concomitant]
     Route: 065
  366. Laxagol [Concomitant]
     Route: 065
  367. Laxagol [Concomitant]
     Route: 065
  368. Laxagol [Concomitant]
     Route: 065
  369. Laxagol [Concomitant]
     Route: 065
  370. Laxagol [Concomitant]
     Route: 065
  371. Laxagol [Concomitant]
     Route: 065
  372. Laxagol [Concomitant]
     Route: 065
  373. Laxagol [Concomitant]
     Route: 065
  374. Laxagol [Concomitant]
     Route: 065
  375. LEVETIRACETAM [Concomitant]
     Active Substance: LEVETIRACETAM
     Dosage: 750 MG, BID
     Route: 048
     Dates: start: 20220201
  376. LEVETIRACETAM [Concomitant]
     Active Substance: LEVETIRACETAM
     Dosage: 750 MG, BID
     Route: 065
     Dates: start: 20220201
  377. LEVETIRACETAM [Concomitant]
     Active Substance: LEVETIRACETAM
     Dosage: 750 MG, BID
     Route: 065
     Dates: start: 20220201
  378. LEVETIRACETAM [Concomitant]
     Active Substance: LEVETIRACETAM
     Route: 065
     Dates: start: 20220201
  379. LEVETIRACETAM [Concomitant]
     Active Substance: LEVETIRACETAM
     Route: 065
     Dates: start: 20220201
  380. LEVETIRACETAM [Concomitant]
     Active Substance: LEVETIRACETAM
     Route: 065
     Dates: start: 20220201
  381. LEVETIRACETAM [Concomitant]
     Active Substance: LEVETIRACETAM
     Route: 065
     Dates: start: 20220201
  382. LEVETIRACETAM [Concomitant]
     Active Substance: LEVETIRACETAM
     Indication: Epilepsy
     Route: 065
     Dates: start: 20220201
  383. LEVETIRACETAM [Concomitant]
     Active Substance: LEVETIRACETAM
     Route: 065
     Dates: start: 20220201
  384. LEVETIRACETAM [Concomitant]
     Active Substance: LEVETIRACETAM
     Route: 065
     Dates: start: 20220201
  385. LEVETIRACETAM [Concomitant]
     Active Substance: LEVETIRACETAM
     Route: 065
     Dates: start: 20220201
  386. LEVETIRACETAM [Concomitant]
     Active Substance: LEVETIRACETAM
     Route: 065
     Dates: start: 20220201
  387. LEVETIRACETAM [Concomitant]
     Active Substance: LEVETIRACETAM
     Route: 065
     Dates: start: 20220201
  388. LEVETIRACETAM [Concomitant]
     Active Substance: LEVETIRACETAM
     Route: 065
     Dates: start: 20220201
  389. LEVETIRACETAM [Concomitant]
     Active Substance: LEVETIRACETAM
     Route: 065
     Dates: start: 20220201
  390. LEVETIRACETAM [Concomitant]
     Active Substance: LEVETIRACETAM
     Route: 065
     Dates: start: 20220201
  391. LEVETIRACETAM [Concomitant]
     Active Substance: LEVETIRACETAM
     Route: 065
     Dates: start: 20220201
  392. LEVETIRACETAM [Concomitant]
     Active Substance: LEVETIRACETAM
     Route: 065
     Dates: start: 20220201
  393. LEVETIRACETAM [Concomitant]
     Active Substance: LEVETIRACETAM
     Route: 065
     Dates: start: 20220201
  394. LEVETIRACETAM [Concomitant]
     Active Substance: LEVETIRACETAM
     Route: 065
     Dates: start: 20220201
  395. LEVETIRACETAM [Concomitant]
     Active Substance: LEVETIRACETAM
     Route: 065
     Dates: start: 20220201
  396. LEVETIRACETAM [Concomitant]
     Active Substance: LEVETIRACETAM
     Route: 065
     Dates: start: 20220201
  397. LEVETIRACETAM [Concomitant]
     Active Substance: LEVETIRACETAM
     Route: 065
     Dates: start: 20220201
  398. LEVETIRACETAM [Concomitant]
     Active Substance: LEVETIRACETAM
     Route: 065
     Dates: start: 20220201
  399. LEVETIRACETAM [Concomitant]
     Active Substance: LEVETIRACETAM
     Route: 065
     Dates: start: 20220201
  400. LEVETIRACETAM [Concomitant]
     Active Substance: LEVETIRACETAM
     Route: 065
     Dates: start: 20220201
  401. LEVETIRACETAM [Concomitant]
     Active Substance: LEVETIRACETAM
     Route: 065
     Dates: start: 20220201
  402. LEVETIRACETAM [Concomitant]
     Active Substance: LEVETIRACETAM
     Route: 065
     Dates: start: 20220201
  403. LEVETIRACETAM [Concomitant]
     Active Substance: LEVETIRACETAM
     Route: 065
     Dates: start: 20220201
  404. LEVOCETIRIZINE [Concomitant]
     Active Substance: LEVOCETIRIZINE
     Indication: Epilepsy
     Route: 065
     Dates: start: 20220801
  405. LIPEGFILGRASTIM [Concomitant]
     Active Substance: LIPEGFILGRASTIM
     Dosage: 6 MG, ONCE EVERY 3 WK
     Route: 058
     Dates: start: 20170113, end: 20170203
  406. LIPEGFILGRASTIM [Concomitant]
     Active Substance: LIPEGFILGRASTIM
     Dosage: 6 MG, ONCE EVERY 3 WK
     Route: 065
     Dates: start: 20170113, end: 20170203
  407. LIPEGFILGRASTIM [Concomitant]
     Active Substance: LIPEGFILGRASTIM
     Dosage: 6 MG, ONCE EVERY 3 WK
     Route: 065
     Dates: start: 20170113, end: 20170203
  408. LIPEGFILGRASTIM [Concomitant]
     Active Substance: LIPEGFILGRASTIM
     Indication: Product used for unknown indication
     Route: 065
  409. LIPEGFILGRASTIM [Concomitant]
     Active Substance: LIPEGFILGRASTIM
     Indication: Product used for unknown indication
     Route: 065
  410. LIPEGFILGRASTIM [Concomitant]
     Active Substance: LIPEGFILGRASTIM
     Indication: Prophylaxis
     Route: 065
  411. LIPEGFILGRASTIM [Concomitant]
     Active Substance: LIPEGFILGRASTIM
     Route: 065
     Dates: start: 20171016
  412. LIPEGFILGRASTIM [Concomitant]
     Active Substance: LIPEGFILGRASTIM
     Route: 065
     Dates: start: 20171016
  413. LIPEGFILGRASTIM [Concomitant]
     Active Substance: LIPEGFILGRASTIM
     Route: 065
  414. LIPEGFILGRASTIM [Concomitant]
     Active Substance: LIPEGFILGRASTIM
     Route: 065
  415. LIPEGFILGRASTIM [Concomitant]
     Active Substance: LIPEGFILGRASTIM
     Route: 065
  416. LOPERAMIDE [Concomitant]
     Active Substance: LOPERAMIDE
     Indication: Diarrhoea
     Route: 048
     Dates: start: 20171127
  417. LOPERAMIDE [Concomitant]
     Active Substance: LOPERAMIDE
     Indication: Epilepsy
     Route: 065
     Dates: start: 20220801
  418. LOPERAMIDE [Concomitant]
     Active Substance: LOPERAMIDE
     Indication: Nausea
     Route: 065
     Dates: start: 20221123
  419. LOPERAMIDE [Concomitant]
     Active Substance: LOPERAMIDE
     Route: 065
     Dates: start: 20221202
  420. MAGNESIUM CARBONATE\MAGNESIUM OXIDE [Concomitant]
     Active Substance: MAGNESIUM CARBONATE\MAGNESIUM OXIDE
     Indication: Product used for unknown indication
     Route: 065
  421. METOCLOPRAMIDE [Concomitant]
     Active Substance: METOCLOPRAMIDE
     Indication: Product used for unknown indication
     Route: 065
     Dates: start: 20180205
  422. METOCLOPRAMIDE [Concomitant]
     Active Substance: METOCLOPRAMIDE
     Route: 065
     Dates: start: 20180205
  423. METOCLOPRAMIDE [Concomitant]
     Active Substance: METOCLOPRAMIDE
     Route: 065
     Dates: start: 20180205
  424. METOCLOPRAMIDE [Concomitant]
     Active Substance: METOCLOPRAMIDE
     Route: 065
     Dates: start: 20180205
  425. METOCLOPRAMIDE [Concomitant]
     Active Substance: METOCLOPRAMIDE
     Route: 065
     Dates: start: 20180205
  426. METOCLOPRAMIDE [Concomitant]
     Active Substance: METOCLOPRAMIDE
     Route: 065
     Dates: start: 20180205
  427. METOCLOPRAMIDE [Concomitant]
     Active Substance: METOCLOPRAMIDE
     Route: 065
     Dates: start: 20180205
  428. METOCLOPRAMIDE [Concomitant]
     Active Substance: METOCLOPRAMIDE
     Route: 065
     Dates: start: 20180205
  429. METOCLOPRAMIDE [Concomitant]
     Active Substance: METOCLOPRAMIDE
     Route: 065
     Dates: start: 20180205
  430. METOCLOPRAMIDE [Concomitant]
     Active Substance: METOCLOPRAMIDE
     Route: 065
     Dates: start: 20180205
  431. METOCLOPRAMIDE [Concomitant]
     Active Substance: METOCLOPRAMIDE
     Route: 065
     Dates: start: 20180205
  432. METOCLOPRAMIDE [Concomitant]
     Active Substance: METOCLOPRAMIDE
     Route: 065
     Dates: start: 20180205
  433. METOCLOPRAMIDE [Concomitant]
     Active Substance: METOCLOPRAMIDE
     Route: 065
     Dates: start: 20180205
  434. METOCLOPRAMIDE [Concomitant]
     Active Substance: METOCLOPRAMIDE
     Route: 065
     Dates: start: 20180205
  435. METOCLOPRAMIDE [Concomitant]
     Active Substance: METOCLOPRAMIDE
     Route: 065
     Dates: start: 20180205
  436. METOCLOPRAMIDE [Concomitant]
     Active Substance: METOCLOPRAMIDE
     Route: 065
     Dates: start: 20180205
  437. METOCLOPRAMIDE [Concomitant]
     Active Substance: METOCLOPRAMIDE
     Route: 065
     Dates: start: 20180205
  438. METOCLOPRAMIDE [Concomitant]
     Active Substance: METOCLOPRAMIDE
     Route: 065
     Dates: start: 20180205
  439. METOCLOPRAMIDE [Concomitant]
     Active Substance: METOCLOPRAMIDE
     Indication: Product used for unknown indication
     Route: 065
  440. MILNACIPRAN [Concomitant]
     Active Substance: MILNACIPRAN
     Route: 065
     Dates: start: 20221123, end: 20230713
  441. MILNACIPRAN [Concomitant]
     Active Substance: MILNACIPRAN
     Route: 065
     Dates: start: 20221123, end: 20230713
  442. MILNACIPRAN [Concomitant]
     Active Substance: MILNACIPRAN
     Route: 065
     Dates: start: 20221123
  443. MILNACIPRAN [Concomitant]
     Active Substance: MILNACIPRAN
     Indication: Product used for unknown indication
     Route: 065
     Dates: start: 20221123
  444. MILNACIPRAN [Concomitant]
     Active Substance: MILNACIPRAN
     Indication: Product used for unknown indication
     Route: 065
     Dates: start: 20221123
  445. MILNACIPRAN [Concomitant]
     Active Substance: MILNACIPRAN
     Route: 065
     Dates: start: 20221123
  446. MILNACIPRAN [Concomitant]
     Active Substance: MILNACIPRAN
     Route: 065
     Dates: start: 20221123
  447. MOVICOL [Concomitant]
     Active Substance: POLYETHYLENE GLYCOL 3350\POTASSIUM CHLORIDE\SODIUM BICARBONATE\SODIUM CHLORIDE
     Indication: Product used for unknown indication
     Route: 065
  448. MOVICOL [Concomitant]
     Active Substance: POLYETHYLENE GLYCOL 3350\POTASSIUM CHLORIDE\SODIUM BICARBONATE\SODIUM CHLORIDE
     Route: 065
  449. MOVICOL [Concomitant]
     Active Substance: POLYETHYLENE GLYCOL 3350\POTASSIUM CHLORIDE\SODIUM BICARBONATE\SODIUM CHLORIDE
     Route: 065
  450. MOVICOL [Concomitant]
     Active Substance: POLYETHYLENE GLYCOL 3350\POTASSIUM CHLORIDE\SODIUM BICARBONATE\SODIUM CHLORIDE
     Indication: Product used for unknown indication
     Route: 065
  451. MYSOLINE [Concomitant]
     Active Substance: PRIMIDONE
     Indication: Product used for unknown indication
     Route: 065
  452. ONDANSETRON HYDROCHLORIDE [Concomitant]
     Active Substance: ONDANSETRON HYDROCHLORIDE
     Route: 065
     Dates: start: 20181105
  453. ONDANSETRON HYDROCHLORIDE [Concomitant]
     Active Substance: ONDANSETRON HYDROCHLORIDE
     Route: 065
     Dates: start: 20181105
  454. ONDANSETRON HYDROCHLORIDE [Concomitant]
     Active Substance: ONDANSETRON HYDROCHLORIDE
     Route: 065
     Dates: start: 20181105
  455. ONDANSETRON HYDROCHLORIDE [Concomitant]
     Active Substance: ONDANSETRON HYDROCHLORIDE
     Route: 048
     Dates: start: 20181105
  456. ONDANSETRON HYDROCHLORIDE [Concomitant]
     Active Substance: ONDANSETRON HYDROCHLORIDE
     Route: 048
     Dates: start: 20181105
  457. ONDANSETRON HYDROCHLORIDE [Concomitant]
     Active Substance: ONDANSETRON HYDROCHLORIDE
     Route: 065
     Dates: start: 20181105
  458. ONDANSETRON HYDROCHLORIDE [Concomitant]
     Active Substance: ONDANSETRON HYDROCHLORIDE
     Route: 065
     Dates: start: 20181105
  459. ONDANSETRON HYDROCHLORIDE [Concomitant]
     Active Substance: ONDANSETRON HYDROCHLORIDE
     Route: 065
     Dates: start: 20181105
  460. ONDANSETRON HYDROCHLORIDE [Concomitant]
     Active Substance: ONDANSETRON HYDROCHLORIDE
     Route: 065
     Dates: start: 20181105
  461. ONDANSETRON HYDROCHLORIDE [Concomitant]
     Active Substance: ONDANSETRON HYDROCHLORIDE
     Route: 065
     Dates: start: 20181105
  462. ONDANSETRON HYDROCHLORIDE [Concomitant]
     Active Substance: ONDANSETRON HYDROCHLORIDE
     Route: 065
     Dates: start: 20181105
  463. ONDANSETRON HYDROCHLORIDE [Concomitant]
     Active Substance: ONDANSETRON HYDROCHLORIDE
     Route: 065
     Dates: start: 20181105
  464. ONDANSETRON HYDROCHLORIDE [Concomitant]
     Active Substance: ONDANSETRON HYDROCHLORIDE
     Route: 065
  465. ONDANSETRON HYDROCHLORIDE [Concomitant]
     Active Substance: ONDANSETRON HYDROCHLORIDE
     Route: 065
  466. ONDANSETRON HYDROCHLORIDE [Concomitant]
     Active Substance: ONDANSETRON HYDROCHLORIDE
     Route: 065
  467. ONDANSETRON HYDROCHLORIDE [Concomitant]
     Active Substance: ONDANSETRON HYDROCHLORIDE
     Route: 065
  468. ONDANSETRON HYDROCHLORIDE [Concomitant]
     Active Substance: ONDANSETRON HYDROCHLORIDE
     Route: 065
  469. ONDANSETRON HYDROCHLORIDE [Concomitant]
     Active Substance: ONDANSETRON HYDROCHLORIDE
     Route: 065
  470. ONDANSETRON HYDROCHLORIDE [Concomitant]
     Active Substance: ONDANSETRON HYDROCHLORIDE
     Indication: Nausea
     Route: 065
     Dates: start: 20181105
  471. ONDANSETRON HYDROCHLORIDE [Concomitant]
     Active Substance: ONDANSETRON HYDROCHLORIDE
     Route: 065
     Dates: start: 20181105
  472. ONDANSETRON HYDROCHLORIDE [Concomitant]
     Active Substance: ONDANSETRON HYDROCHLORIDE
     Route: 065
     Dates: start: 20181105
  473. ONDANSETRON HYDROCHLORIDE [Concomitant]
     Active Substance: ONDANSETRON HYDROCHLORIDE
     Route: 065
     Dates: start: 20181105
  474. ONDANSETRON HYDROCHLORIDE [Concomitant]
     Active Substance: ONDANSETRON HYDROCHLORIDE
     Route: 065
     Dates: start: 20181105
  475. ONDANSETRON HYDROCHLORIDE [Concomitant]
     Active Substance: ONDANSETRON HYDROCHLORIDE
     Route: 065
     Dates: start: 20181105
  476. ONDANSETRON HYDROCHLORIDE [Concomitant]
     Active Substance: ONDANSETRON HYDROCHLORIDE
     Route: 065
     Dates: start: 20181105
  477. ONDANSETRON HYDROCHLORIDE [Concomitant]
     Active Substance: ONDANSETRON HYDROCHLORIDE
     Route: 065
     Dates: start: 20181105
  478. ONDANSETRON HYDROCHLORIDE [Concomitant]
     Active Substance: ONDANSETRON HYDROCHLORIDE
     Route: 065
     Dates: start: 20181105
  479. ONDANSETRON HYDROCHLORIDE [Concomitant]
     Active Substance: ONDANSETRON HYDROCHLORIDE
     Route: 065
     Dates: start: 20181105
  480. ONDANSETRON HYDROCHLORIDE [Concomitant]
     Active Substance: ONDANSETRON HYDROCHLORIDE
     Route: 065
     Dates: start: 20181105
  481. ONDANSETRON HYDROCHLORIDE [Concomitant]
     Active Substance: ONDANSETRON HYDROCHLORIDE
     Route: 065
     Dates: start: 20181105
  482. GUAR GUM [Concomitant]
     Active Substance: GUAR GUM
     Route: 048
     Dates: start: 20161102, end: 2016
  483. GUAR GUM [Concomitant]
     Active Substance: GUAR GUM
     Indication: Product used for unknown indication
     Route: 065
  484. GUAR GUM [Concomitant]
     Active Substance: GUAR GUM
     Indication: Prophylaxis
     Route: 065
  485. GUAR GUM [Concomitant]
     Active Substance: GUAR GUM
     Route: 065
  486. GUAR GUM [Concomitant]
     Active Substance: GUAR GUM
     Route: 065
  487. GUAR GUM [Concomitant]
     Active Substance: GUAR GUM
     Route: 065
  488. GUAR GUM [Concomitant]
     Active Substance: GUAR GUM
     Route: 065
  489. GUAR GUM [Concomitant]
     Active Substance: GUAR GUM
     Route: 065
  490. GUAR GUM [Concomitant]
     Active Substance: GUAR GUM
     Route: 065
     Dates: start: 20161102, end: 2016
  491. GUAR GUM [Concomitant]
     Active Substance: GUAR GUM
     Route: 065
     Dates: start: 20161102, end: 2016
  492. GUAR GUM [Concomitant]
     Active Substance: GUAR GUM
     Indication: Product used for unknown indication
     Route: 065
  493. OSELTAMIVIR [Concomitant]
     Active Substance: OSELTAMIVIR
     Indication: Product used for unknown indication
     Route: 065
  494. OSELTAMIVIR [Concomitant]
     Active Substance: OSELTAMIVIR
     Route: 065
  495. PANTOPRAZOLE SODIUM [Concomitant]
     Active Substance: PANTOPRAZOLE SODIUM
     Dosage: 40 MG, QD
     Route: 048
     Dates: start: 20161031, end: 20161123
  496. PANTOPRAZOLE SODIUM [Concomitant]
     Active Substance: PANTOPRAZOLE SODIUM
     Dosage: 40 MG, QD
     Route: 065
     Dates: start: 20161031, end: 20161123
  497. PANTOPRAZOLE SODIUM [Concomitant]
     Active Substance: PANTOPRAZOLE SODIUM
     Dosage: 40 MG, QD
     Route: 065
     Dates: start: 20161031, end: 20161123
  498. PANTOPRAZOLE SODIUM [Concomitant]
     Active Substance: PANTOPRAZOLE SODIUM
     Dosage: 40 MG, BID
     Route: 042
     Dates: start: 20161010, end: 20161018
  499. PANTOPRAZOLE SODIUM [Concomitant]
     Active Substance: PANTOPRAZOLE SODIUM
     Dosage: 40 MG, BID
     Route: 048
     Dates: start: 20161018, end: 20161030
  500. PANTOPRAZOLE SODIUM [Concomitant]
     Active Substance: PANTOPRAZOLE SODIUM
     Dosage: 40 MG, BID
     Route: 065
     Dates: start: 20161010, end: 20161018
  501. PANTOPRAZOLE SODIUM [Concomitant]
     Active Substance: PANTOPRAZOLE SODIUM
     Dosage: 40 MG, BID
     Route: 065
     Dates: start: 20161010, end: 20161018
  502. PANTOPRAZOLE SODIUM [Concomitant]
     Active Substance: PANTOPRAZOLE SODIUM
     Dosage: 40 MG, BID
     Route: 065
     Dates: start: 20161018, end: 20161030
  503. PANTOPRAZOLE SODIUM [Concomitant]
     Active Substance: PANTOPRAZOLE SODIUM
     Dosage: 40 MG, BID
     Route: 065
     Dates: start: 20161018, end: 20161030
  504. PANTOPRAZOLE SODIUM [Concomitant]
     Active Substance: PANTOPRAZOLE SODIUM
     Indication: Product used for unknown indication
     Route: 065
  505. PANTOPRAZOLE SODIUM [Concomitant]
     Active Substance: PANTOPRAZOLE SODIUM
     Route: 065
  506. PANTOPRAZOLE SODIUM [Concomitant]
     Active Substance: PANTOPRAZOLE SODIUM
     Route: 065
  507. PANTOPRAZOLE SODIUM [Concomitant]
     Active Substance: PANTOPRAZOLE SODIUM
     Route: 065
  508. PANTOPRAZOLE SODIUM [Concomitant]
     Active Substance: PANTOPRAZOLE SODIUM
     Route: 065
  509. PANTOPRAZOLE SODIUM [Concomitant]
     Active Substance: PANTOPRAZOLE SODIUM
     Route: 065
  510. PANTOPRAZOLE SODIUM [Concomitant]
     Active Substance: PANTOPRAZOLE SODIUM
     Route: 065
  511. PANTOPRAZOLE SODIUM [Concomitant]
     Active Substance: PANTOPRAZOLE SODIUM
     Indication: Product used for unknown indication
     Route: 065
  512. ACETAMINOPHEN [Concomitant]
     Active Substance: ACETAMINOPHEN
     Indication: Product used for unknown indication
     Dosage: 1 G, QD
     Route: 042
     Dates: start: 20161208, end: 20161212
  513. Paspertin [Concomitant]
     Indication: Product used for unknown indication
     Route: 065
  514. PERFALGAN [Concomitant]
     Active Substance: ACETAMINOPHEN
     Indication: Product used for unknown indication
     Route: 065
  515. PERFALGAN [Concomitant]
     Active Substance: ACETAMINOPHEN
     Route: 065
  516. PERFALGAN [Concomitant]
     Active Substance: ACETAMINOPHEN
     Route: 065
  517. PERFALGAN [Concomitant]
     Active Substance: ACETAMINOPHEN
     Route: 065
  518. PERFALGAN [Concomitant]
     Active Substance: ACETAMINOPHEN
     Route: 065
  519. PERFALGAN [Concomitant]
     Active Substance: ACETAMINOPHEN
     Route: 065
  520. RAMIPRIL [Concomitant]
     Active Substance: RAMIPRIL
     Dosage: 15 MG
     Route: 065
     Dates: start: 20170227
  521. RAMIPRIL [Concomitant]
     Active Substance: RAMIPRIL
     Dosage: 15 MG
     Route: 065
     Dates: start: 20170227
  522. RAMIPRIL [Concomitant]
     Active Substance: RAMIPRIL
     Dosage: 15 MG, BID
     Route: 048
     Dates: start: 20170227
  523. RAMIPRIL [Concomitant]
     Active Substance: RAMIPRIL
     Dosage: 2.5 MG, BID
     Route: 048
     Dates: start: 20161112, end: 20161221
  524. RAMIPRIL [Concomitant]
     Active Substance: RAMIPRIL
     Dosage: 2.5 MG, BID (Q12H)
     Route: 065
     Dates: start: 20161112, end: 20161221
  525. RAMIPRIL [Concomitant]
     Active Substance: RAMIPRIL
     Dosage: 2.5 MG, BID (Q12H)
     Route: 065
     Dates: start: 20161112, end: 20161221
  526. RAMIPRIL [Concomitant]
     Active Substance: RAMIPRIL
     Dosage: 5 MG, BID
     Route: 065
     Dates: start: 20161222, end: 20170226
  527. RAMIPRIL [Concomitant]
     Active Substance: RAMIPRIL
     Dosage: 5 MG, BID
     Route: 065
     Dates: start: 20161222, end: 20170226
  528. RAMIPRIL [Concomitant]
     Active Substance: RAMIPRIL
     Dosage: UNK UNK, BID
     Route: 048
     Dates: start: 20161222, end: 20170226
  529. RAMIPRIL [Concomitant]
     Active Substance: RAMIPRIL
     Indication: Cardiovascular event prophylaxis
     Route: 065
     Dates: start: 20170227
  530. RAMIPRIL [Concomitant]
     Active Substance: RAMIPRIL
     Indication: Product used for unknown indication
     Route: 065
     Dates: start: 20170227
  531. RAMIPRIL [Concomitant]
     Active Substance: RAMIPRIL
     Route: 065
     Dates: start: 20170227
  532. RAMIPRIL [Concomitant]
     Active Substance: RAMIPRIL
     Route: 065
     Dates: start: 20170227
  533. RAMIPRIL [Concomitant]
     Active Substance: RAMIPRIL
     Route: 065
     Dates: start: 20170227
  534. RAMIPRIL [Concomitant]
     Active Substance: RAMIPRIL
     Route: 065
     Dates: start: 20170227
  535. RAMIPRIL [Concomitant]
     Active Substance: RAMIPRIL
     Route: 065
     Dates: start: 20170227
  536. RAMIPRIL [Concomitant]
     Active Substance: RAMIPRIL
     Indication: Product used for unknown indication
     Route: 065
     Dates: start: 20170227
  537. RAMIPRIL [Concomitant]
     Active Substance: RAMIPRIL
     Route: 065
     Dates: start: 20161222, end: 20170226
  538. RAMIPRIL [Concomitant]
     Active Substance: RAMIPRIL
     Route: 065
     Dates: start: 20161222, end: 20170226
  539. RAMIPRIL [Concomitant]
     Active Substance: RAMIPRIL
     Route: 065
     Dates: start: 20170227
  540. RAMIPRIL [Concomitant]
     Active Substance: RAMIPRIL
     Route: 065
     Dates: start: 20170227
  541. RAMIPRIL [Concomitant]
     Active Substance: RAMIPRIL
     Route: 065
     Dates: start: 20170227
  542. RAMIPRIL [Concomitant]
     Active Substance: RAMIPRIL
     Route: 065
     Dates: start: 20170227
  543. RAMIPRIL [Concomitant]
     Active Substance: RAMIPRIL
     Route: 065
     Dates: start: 20170227
  544. RAMIPRIL [Concomitant]
     Active Substance: RAMIPRIL
     Route: 065
     Dates: start: 20170227
  545. RAMIPRIL [Concomitant]
     Active Substance: RAMIPRIL
     Route: 065
     Dates: start: 20170227
  546. RAMIPRIL [Concomitant]
     Active Substance: RAMIPRIL
     Route: 065
     Dates: start: 20170227
  547. RAMIPRIL [Concomitant]
     Active Substance: RAMIPRIL
     Route: 065
     Dates: start: 20170227
  548. RAMIPRIL [Concomitant]
     Active Substance: RAMIPRIL
     Route: 065
     Dates: start: 20170227
  549. RAMIPRIL [Concomitant]
     Active Substance: RAMIPRIL
     Route: 065
     Dates: start: 20170227
  550. RAMIPRIL [Concomitant]
     Active Substance: RAMIPRIL
     Route: 065
     Dates: start: 20170227
  551. RAMIPRIL [Concomitant]
     Active Substance: RAMIPRIL
     Route: 065
     Dates: start: 20170227
  552. RAMIPRIL [Concomitant]
     Active Substance: RAMIPRIL
     Route: 065
     Dates: start: 20170227
  553. RAMIPRIL [Concomitant]
     Active Substance: RAMIPRIL
     Route: 065
     Dates: start: 20170227
  554. RAMIPRIL [Concomitant]
     Active Substance: RAMIPRIL
     Route: 065
     Dates: start: 20170227
  555. RAMIPRIL [Concomitant]
     Active Substance: RAMIPRIL
     Route: 065
     Dates: start: 20170227
  556. RAMIPRIL [Concomitant]
     Active Substance: RAMIPRIL
     Route: 065
     Dates: start: 20170227
  557. FILGRASTIM [Concomitant]
     Active Substance: FILGRASTIM
     Indication: Product used for unknown indication
     Route: 058
     Dates: start: 20161208, end: 20161211
  558. FILGRASTIM [Concomitant]
     Active Substance: FILGRASTIM
     Indication: Product used for unknown indication
     Route: 058
     Dates: start: 20161208, end: 20161211
  559. FILGRASTIM [Concomitant]
     Active Substance: FILGRASTIM
     Indication: Product used for unknown indication
     Route: 065
     Dates: start: 20230811, end: 20230924
  560. Rexaler [Concomitant]
     Indication: Product used for unknown indication
     Route: 065
     Dates: start: 20220801
  561. Rexaler [Concomitant]
     Route: 065
     Dates: start: 20220801
  562. Rexaler [Concomitant]
     Route: 065
     Dates: start: 20220801
  563. DEXIBUPROFEN [Concomitant]
     Active Substance: DEXIBUPROFEN
     Dosage: 1200 MG, QD (400 MG Q8H (THRICE DAILY))
     Route: 065
     Dates: start: 20210312
  564. DEXIBUPROFEN [Concomitant]
     Active Substance: DEXIBUPROFEN
     Dosage: 1200 MG, QD (400 MG Q8H (THRICE DAILY))
     Route: 065
     Dates: start: 20210312
  565. DEXIBUPROFEN [Concomitant]
     Active Substance: DEXIBUPROFEN
     Dosage: 400 MG, TID (DATE OF LAST DOSE ADMINISTARTION: 25/NOV/2023)
     Route: 048
     Dates: start: 20210312
  566. DEXIBUPROFEN [Concomitant]
     Active Substance: DEXIBUPROFEN
     Route: 065
     Dates: start: 20210312
  567. DEXIBUPROFEN [Concomitant]
     Active Substance: DEXIBUPROFEN
     Route: 065
     Dates: start: 20210312
  568. DEXIBUPROFEN [Concomitant]
     Active Substance: DEXIBUPROFEN
     Route: 065
     Dates: start: 20210312
  569. DEXIBUPROFEN [Concomitant]
     Active Substance: DEXIBUPROFEN
     Route: 065
     Dates: start: 20210312
  570. DEXIBUPROFEN [Concomitant]
     Active Substance: DEXIBUPROFEN
     Indication: Pain prophylaxis
     Route: 065
     Dates: start: 20210312
  571. DEXIBUPROFEN [Concomitant]
     Active Substance: DEXIBUPROFEN
     Indication: Product used for unknown indication
     Route: 065
     Dates: start: 20210312
  572. DEXIBUPROFEN [Concomitant]
     Active Substance: DEXIBUPROFEN
     Indication: Product used for unknown indication
     Route: 065
     Dates: start: 20210312
  573. DEXIBUPROFEN [Concomitant]
     Active Substance: DEXIBUPROFEN
     Route: 065
     Dates: start: 20210312
  574. DEXIBUPROFEN [Concomitant]
     Active Substance: DEXIBUPROFEN
     Route: 065
     Dates: start: 20210312
  575. DEXIBUPROFEN [Concomitant]
     Active Substance: DEXIBUPROFEN
     Route: 065
     Dates: start: 20210312
  576. DEXIBUPROFEN [Concomitant]
     Active Substance: DEXIBUPROFEN
     Route: 065
     Dates: start: 20210312
  577. DEXIBUPROFEN [Concomitant]
     Active Substance: DEXIBUPROFEN
     Route: 065
     Dates: start: 20210312
  578. DEXIBUPROFEN [Concomitant]
     Active Substance: DEXIBUPROFEN
     Route: 065
     Dates: start: 20210312
  579. DEXIBUPROFEN [Concomitant]
     Active Substance: DEXIBUPROFEN
     Route: 065
     Dates: start: 20210312
  580. DEXIBUPROFEN [Concomitant]
     Active Substance: DEXIBUPROFEN
     Route: 065
     Dates: start: 20210312
  581. DEXIBUPROFEN [Concomitant]
     Active Substance: DEXIBUPROFEN
     Route: 065
     Dates: start: 20210312
  582. DEXIBUPROFEN [Concomitant]
     Active Substance: DEXIBUPROFEN
     Route: 065
     Dates: start: 20210312
  583. DEXIBUPROFEN [Concomitant]
     Active Substance: DEXIBUPROFEN
     Route: 065
     Dates: start: 20210312
  584. DEXIBUPROFEN [Concomitant]
     Active Substance: DEXIBUPROFEN
     Route: 065
     Dates: start: 20210312
  585. DEXIBUPROFEN [Concomitant]
     Active Substance: DEXIBUPROFEN
     Route: 065
     Dates: start: 20210312
  586. DEXIBUPROFEN [Concomitant]
     Active Substance: DEXIBUPROFEN
     Route: 065
     Dates: start: 20210312
  587. DEXIBUPROFEN [Concomitant]
     Active Substance: DEXIBUPROFEN
     Route: 065
     Dates: start: 20210312
  588. DEXIBUPROFEN [Concomitant]
     Active Substance: DEXIBUPROFEN
     Route: 065
     Dates: start: 20210312
  589. DEXIBUPROFEN [Concomitant]
     Active Substance: DEXIBUPROFEN
     Route: 065
     Dates: start: 20210312
  590. DEXIBUPROFEN [Concomitant]
     Active Substance: DEXIBUPROFEN
     Route: 065
     Dates: start: 20210312
  591. DEXIBUPROFEN [Concomitant]
     Active Substance: DEXIBUPROFEN
     Route: 065
     Dates: start: 20210312
  592. SERTRALINE HYDROCHLORIDE [Concomitant]
     Active Substance: SERTRALINE HYDROCHLORIDE
     Route: 065
     Dates: start: 20171016
  593. SERTRALINE HYDROCHLORIDE [Concomitant]
     Active Substance: SERTRALINE HYDROCHLORIDE
     Route: 065
     Dates: start: 20171016
  594. SERTRALINE HYDROCHLORIDE [Concomitant]
     Active Substance: SERTRALINE HYDROCHLORIDE
     Indication: Product used for unknown indication
     Route: 065
     Dates: start: 20171016
  595. SERTRALINE HYDROCHLORIDE [Concomitant]
     Active Substance: SERTRALINE HYDROCHLORIDE
     Indication: Product used for unknown indication
     Route: 065
     Dates: start: 20171016
  596. SERTRALINE HYDROCHLORIDE [Concomitant]
     Active Substance: SERTRALINE HYDROCHLORIDE
     Route: 065
     Dates: start: 20171016
  597. SERTRALINE HYDROCHLORIDE [Concomitant]
     Active Substance: SERTRALINE HYDROCHLORIDE
     Route: 065
     Dates: start: 20171016
  598. SERTRALINE HYDROCHLORIDE [Concomitant]
     Active Substance: SERTRALINE HYDROCHLORIDE
     Route: 065
     Dates: start: 20171016
  599. SERTRALINE HYDROCHLORIDE [Concomitant]
     Active Substance: SERTRALINE HYDROCHLORIDE
     Route: 065
     Dates: start: 20171016
  600. SERTRALINE HYDROCHLORIDE [Concomitant]
     Active Substance: SERTRALINE HYDROCHLORIDE
     Route: 065
     Dates: start: 20171016
  601. SERTRALINE HYDROCHLORIDE [Concomitant]
     Active Substance: SERTRALINE HYDROCHLORIDE
     Route: 065
     Dates: start: 20171016
  602. SERTRALINE HYDROCHLORIDE [Concomitant]
     Active Substance: SERTRALINE HYDROCHLORIDE
     Route: 065
     Dates: start: 20171016
  603. SERTRALINE HYDROCHLORIDE [Concomitant]
     Active Substance: SERTRALINE HYDROCHLORIDE
     Route: 065
     Dates: start: 20171016
  604. SERTRALINE HYDROCHLORIDE [Concomitant]
     Active Substance: SERTRALINE HYDROCHLORIDE
     Route: 065
     Dates: start: 20171016
  605. AMINO ACIDS\DEXTROSE\ELECTROLYTES NOS\SOYBEAN OIL [Concomitant]
     Active Substance: AMINO ACIDS\DEXTROSE\ELECTROLYTES NOS\SOYBEAN OIL
     Indication: Product used for unknown indication
     Route: 065
  606. SPIRONOLACTONE [Concomitant]
     Active Substance: SPIRONOLACTONE
     Indication: Product used for unknown indication
     Route: 065
     Dates: start: 20230811
  607. Sucralan [Concomitant]
     Route: 048
     Dates: start: 20161215
  608. Sucralan [Concomitant]
     Route: 065
     Dates: start: 201612, end: 20161212
  609. Sucralan [Concomitant]
     Route: 065
     Dates: start: 201612, end: 20161212
  610. Sucralan [Concomitant]
     Indication: Product used for unknown indication
     Route: 065
     Dates: start: 20161215
  611. Sucralan [Concomitant]
     Indication: Product used for unknown indication
     Route: 065
     Dates: start: 20161215
  612. Sucralan [Concomitant]
     Indication: Prophylaxis
     Route: 065
     Dates: start: 20161215
  613. Sucralan [Concomitant]
     Route: 065
     Dates: start: 20161215
  614. Sucralan [Concomitant]
     Route: 065
     Dates: start: 20161215
  615. Sucralan [Concomitant]
     Route: 065
     Dates: start: 20161215
  616. Sucralan [Concomitant]
     Route: 065
     Dates: start: 20161215
  617. Sucralan [Concomitant]
     Route: 065
     Dates: start: 20161215
  618. Sucralan [Concomitant]
     Route: 065
     Dates: start: 20161215
  619. Sucralan [Concomitant]
     Route: 065
     Dates: start: 20161215
  620. Sucralan [Concomitant]
     Route: 065
     Dates: start: 20161215
  621. Sucralan [Concomitant]
     Route: 065
     Dates: start: 20161215
  622. Sucralan [Concomitant]
     Route: 065
     Dates: start: 20161215
  623. Sucralan [Concomitant]
     Route: 065
     Dates: start: 20161215
  624. Sucralan [Concomitant]
     Route: 065
     Dates: start: 20161215
  625. Sucralan [Concomitant]
     Route: 065
     Dates: start: 20161215
  626. Sucralan [Concomitant]
     Route: 065
     Dates: start: 20161215
  627. Sucralan [Concomitant]
     Route: 065
     Dates: start: 20161215
  628. Sucralan [Concomitant]
     Route: 065
     Dates: start: 20161215
  629. Sucralan [Concomitant]
     Route: 065
     Dates: start: 20161215
  630. Sucralan [Concomitant]
     Route: 065
     Dates: start: 20161215
  631. Sucralan [Concomitant]
     Route: 065
     Dates: start: 20161215
  632. Sucralan [Concomitant]
     Route: 065
     Dates: start: 20161215
  633. Sucralan [Concomitant]
     Route: 065
     Dates: start: 20161215
  634. Sucralan [Concomitant]
     Route: 065
     Dates: start: 20161215
  635. Sucralan [Concomitant]
     Route: 065
     Dates: start: 20161215
  636. TAZOBACTAM [Concomitant]
     Active Substance: TAZOBACTAM
     Dosage: 4.5 G, QD
     Route: 042
     Dates: start: 20161208, end: 20161212
  637. TAZOBACTAM [Concomitant]
     Active Substance: TAZOBACTAM
     Dosage: 4.5 G, QD
     Route: 065
     Dates: start: 20161208, end: 20161212
  638. TAZOBACTAM [Concomitant]
     Active Substance: TAZOBACTAM
     Dosage: 4.5 G, QD
     Route: 065
     Dates: start: 20161208, end: 20161212
  639. TAZOBACTAM [Concomitant]
     Active Substance: TAZOBACTAM
     Indication: Product used for unknown indication
     Route: 065
  640. TAZOBACTAM [Concomitant]
     Active Substance: TAZOBACTAM
     Route: 065
  641. TAZOBACTAM [Concomitant]
     Active Substance: TAZOBACTAM
     Route: 065
  642. TAZOBACTAM [Concomitant]
     Active Substance: TAZOBACTAM
     Route: 065
  643. TAZOBACTAM [Concomitant]
     Active Substance: TAZOBACTAM
     Route: 065
  644. TAZOBACTAM [Concomitant]
     Active Substance: TAZOBACTAM
     Route: 065
  645. TAZOBACTAM [Concomitant]
     Active Substance: TAZOBACTAM
     Route: 065
  646. TAZOBACTAM [Concomitant]
     Active Substance: TAZOBACTAM
     Indication: Product used for unknown indication
     Route: 065
  647. Tracel [Concomitant]
     Indication: Product used for unknown indication
     Route: 065
  648. TRAZODONE HYDROCHLORIDE [Concomitant]
     Active Substance: TRAZODONE HYDROCHLORIDE
     Route: 065
     Dates: start: 20221129
  649. TRAZODONE HYDROCHLORIDE [Concomitant]
     Active Substance: TRAZODONE HYDROCHLORIDE
     Route: 065
     Dates: start: 20221129
  650. TRAZODONE HYDROCHLORIDE [Concomitant]
     Active Substance: TRAZODONE HYDROCHLORIDE
     Route: 065
     Dates: start: 20221129
  651. TRAZODONE HYDROCHLORIDE [Concomitant]
     Active Substance: TRAZODONE HYDROCHLORIDE
     Route: 065
     Dates: start: 20221129
  652. TRAZODONE HYDROCHLORIDE [Concomitant]
     Active Substance: TRAZODONE HYDROCHLORIDE
     Route: 065
     Dates: start: 20221129
  653. TRAZODONE HYDROCHLORIDE [Concomitant]
     Active Substance: TRAZODONE HYDROCHLORIDE
     Route: 065
     Dates: start: 20221129
  654. TRAZODONE HYDROCHLORIDE [Concomitant]
     Active Substance: TRAZODONE HYDROCHLORIDE
     Route: 065
     Dates: start: 20221129
  655. TRAZODONE HYDROCHLORIDE [Concomitant]
     Active Substance: TRAZODONE HYDROCHLORIDE
     Indication: Product used for unknown indication
     Route: 065
     Dates: start: 20221129
  656. TRAZODONE HYDROCHLORIDE [Concomitant]
     Active Substance: TRAZODONE HYDROCHLORIDE
     Indication: Product used for unknown indication
     Route: 065
     Dates: start: 20221129
  657. TRAZODONE HYDROCHLORIDE [Concomitant]
     Active Substance: TRAZODONE HYDROCHLORIDE
     Route: 065
     Dates: start: 20221129
  658. TRAZODONE HYDROCHLORIDE [Concomitant]
     Active Substance: TRAZODONE HYDROCHLORIDE
     Route: 065
     Dates: start: 20221129
  659. TRAZODONE HYDROCHLORIDE [Concomitant]
     Active Substance: TRAZODONE HYDROCHLORIDE
     Route: 065
     Dates: start: 20221129
  660. TRAZODONE HYDROCHLORIDE [Concomitant]
     Active Substance: TRAZODONE HYDROCHLORIDE
     Route: 065
     Dates: start: 20221129
  661. TRAZODONE HYDROCHLORIDE [Concomitant]
     Active Substance: TRAZODONE HYDROCHLORIDE
     Route: 065
     Dates: start: 20221129
  662. TRAZODONE HYDROCHLORIDE [Concomitant]
     Active Substance: TRAZODONE HYDROCHLORIDE
     Route: 065
     Dates: start: 20221129
  663. TRAZODONE HYDROCHLORIDE [Concomitant]
     Active Substance: TRAZODONE HYDROCHLORIDE
     Route: 065
     Dates: start: 20221129
  664. TRAZODONE HYDROCHLORIDE [Concomitant]
     Active Substance: TRAZODONE HYDROCHLORIDE
     Route: 065
     Dates: start: 20221129
  665. TRAZODONE HYDROCHLORIDE [Concomitant]
     Active Substance: TRAZODONE HYDROCHLORIDE
     Route: 065
     Dates: start: 20221129
  666. TRAZODONE HYDROCHLORIDE [Concomitant]
     Active Substance: TRAZODONE HYDROCHLORIDE
     Route: 065
     Dates: start: 20221129
  667. TRAZODONE HYDROCHLORIDE [Concomitant]
     Active Substance: TRAZODONE HYDROCHLORIDE
     Route: 065
     Dates: start: 20221129
  668. TRAZODONE HYDROCHLORIDE [Concomitant]
     Active Substance: TRAZODONE HYDROCHLORIDE
     Route: 065
     Dates: start: 20221129
  669. TRAZODONE HYDROCHLORIDE [Concomitant]
     Active Substance: TRAZODONE HYDROCHLORIDE
     Route: 065
     Dates: start: 20221129
  670. TRAZODONE HYDROCHLORIDE [Concomitant]
     Active Substance: TRAZODONE HYDROCHLORIDE
     Route: 065
     Dates: start: 20221129
  671. TRAZODONE HYDROCHLORIDE [Concomitant]
     Active Substance: TRAZODONE HYDROCHLORIDE
     Route: 065
     Dates: start: 20221129
  672. TRAZODONE HYDROCHLORIDE [Concomitant]
     Active Substance: TRAZODONE HYDROCHLORIDE
     Route: 065
     Dates: start: 20221129
  673. TRAZODONE HYDROCHLORIDE [Concomitant]
     Active Substance: TRAZODONE HYDROCHLORIDE
     Route: 065
     Dates: start: 20221129
  674. TRAZODONE HYDROCHLORIDE [Concomitant]
     Active Substance: TRAZODONE HYDROCHLORIDE
     Route: 065
     Dates: start: 20221129
  675. TRAZODONE HYDROCHLORIDE [Concomitant]
     Active Substance: TRAZODONE HYDROCHLORIDE
     Route: 065
     Dates: start: 20221129
  676. TRAZODONE HYDROCHLORIDE [Concomitant]
     Active Substance: TRAZODONE HYDROCHLORIDE
     Route: 065
     Dates: start: 20221129
  677. TRAZODONE HYDROCHLORIDE [Concomitant]
     Active Substance: TRAZODONE HYDROCHLORIDE
     Route: 065
     Dates: start: 20221129
  678. TRAZODONE HYDROCHLORIDE [Concomitant]
     Active Substance: TRAZODONE HYDROCHLORIDE
     Route: 065
     Dates: start: 20221129
  679. TUCATINIB [Concomitant]
     Active Substance: TUCATINIB
     Indication: Breast cancer metastatic
     Dosage: 300 MG, BID
     Route: 048
     Dates: start: 20210430, end: 20221023
  680. TUCATINIB [Concomitant]
     Active Substance: TUCATINIB
     Route: 048
     Dates: start: 20210929
  681. VIMPAT [Concomitant]
     Active Substance: LACOSAMIDE
     Indication: HER2 positive breast cancer
     Route: 065
  682. VIMPAT [Concomitant]
     Active Substance: LACOSAMIDE
     Indication: Product used for unknown indication
     Route: 065
  683. VIMPAT [Concomitant]
     Active Substance: LACOSAMIDE
     Route: 065
     Dates: start: 20230602
  684. VIMPAT [Concomitant]
     Active Substance: LACOSAMIDE
     Route: 065
     Dates: start: 20230602
  685. VIMPAT [Concomitant]
     Active Substance: LACOSAMIDE
     Route: 065
  686. VIMPAT [Concomitant]
     Active Substance: LACOSAMIDE
     Route: 065
  687. VIMPAT [Concomitant]
     Active Substance: LACOSAMIDE
     Route: 065
  688. VIMPAT [Concomitant]
     Active Substance: LACOSAMIDE
     Indication: Product used for unknown indication
     Route: 065
  689. VIMPAT [Concomitant]
     Active Substance: LACOSAMIDE
     Route: 065
  690. VIMPAT [Concomitant]
     Active Substance: LACOSAMIDE
     Route: 065
  691. ALPRAZOLAM [Concomitant]
     Active Substance: ALPRAZOLAM
     Route: 065
     Dates: start: 20161117
  692. ALPRAZOLAM [Concomitant]
     Active Substance: ALPRAZOLAM
     Route: 065
     Dates: start: 20161117
  693. ALPRAZOLAM [Concomitant]
     Active Substance: ALPRAZOLAM
     Route: 048
     Dates: start: 20161117
  694. ALPRAZOLAM [Concomitant]
     Active Substance: ALPRAZOLAM
     Route: 065
     Dates: start: 20161117
  695. ALPRAZOLAM [Concomitant]
     Active Substance: ALPRAZOLAM
     Route: 065
     Dates: start: 20161117
  696. ALPRAZOLAM [Concomitant]
     Active Substance: ALPRAZOLAM
     Indication: Product used for unknown indication
     Route: 065
  697. ALPRAZOLAM [Concomitant]
     Active Substance: ALPRAZOLAM
     Indication: Product used for unknown indication
     Route: 065
  698. ALPRAZOLAM [Concomitant]
     Active Substance: ALPRAZOLAM
     Route: 065
  699. ALPRAZOLAM [Concomitant]
     Active Substance: ALPRAZOLAM
     Route: 065
  700. ALPRAZOLAM [Concomitant]
     Active Substance: ALPRAZOLAM
     Route: 065
  701. ALPRAZOLAM [Concomitant]
     Active Substance: ALPRAZOLAM
     Route: 065
  702. ALPRAZOLAM [Concomitant]
     Active Substance: ALPRAZOLAM
     Route: 065
  703. ALPRAZOLAM [Concomitant]
     Active Substance: ALPRAZOLAM
     Route: 065
  704. XARELTO [Concomitant]
     Active Substance: RIVAROXABAN
     Dosage: 10 MG, QD
     Route: 048
     Dates: start: 20161026, end: 201612
  705. XARELTO [Concomitant]
     Active Substance: RIVAROXABAN
     Dosage: 10 MG, QD
     Route: 065
     Dates: start: 20161026, end: 201612
  706. XARELTO [Concomitant]
     Active Substance: RIVAROXABAN
     Dosage: 10 MG, QD
     Route: 065
     Dates: start: 20161026, end: 201612
  707. XARELTO [Concomitant]
     Active Substance: RIVAROXABAN
     Indication: Product used for unknown indication
     Route: 065
  708. XARELTO [Concomitant]
     Active Substance: RIVAROXABAN
     Route: 065
  709. XARELTO [Concomitant]
     Active Substance: RIVAROXABAN
     Route: 065
  710. XARELTO [Concomitant]
     Active Substance: RIVAROXABAN
     Route: 065
  711. XARELTO [Concomitant]
     Active Substance: RIVAROXABAN
     Route: 065
  712. XARELTO [Concomitant]
     Active Substance: RIVAROXABAN
     Indication: Product used for unknown indication
  713. XGEVA [Concomitant]
     Active Substance: DENOSUMAB
     Route: 065
     Dates: start: 20161201
  714. XGEVA [Concomitant]
     Active Substance: DENOSUMAB
     Route: 065
     Dates: start: 20161201
  715. XGEVA [Concomitant]
     Active Substance: DENOSUMAB
     Route: 065
     Dates: start: 20161201
  716. XGEVA [Concomitant]
     Active Substance: DENOSUMAB
     Route: 065
     Dates: start: 20161201
  717. XGEVA [Concomitant]
     Active Substance: DENOSUMAB
     Route: 065
     Dates: start: 20161201
  718. XGEVA [Concomitant]
     Active Substance: DENOSUMAB
     Indication: Product used for unknown indication
     Route: 065
     Dates: start: 20161201
  719. XGEVA [Concomitant]
     Active Substance: DENOSUMAB
     Route: 065
     Dates: start: 20161201
  720. XGEVA [Concomitant]
     Active Substance: DENOSUMAB
     Route: 065
     Dates: start: 20161201
  721. XGEVA [Concomitant]
     Active Substance: DENOSUMAB
     Route: 065
     Dates: start: 20161201
  722. XGEVA [Concomitant]
     Active Substance: DENOSUMAB
     Route: 065
     Dates: start: 20161201
  723. XGEVA [Concomitant]
     Active Substance: DENOSUMAB
     Route: 065
     Dates: start: 20161201
  724. XGEVA [Concomitant]
     Active Substance: DENOSUMAB
     Route: 065
     Dates: start: 20161201
  725. XGEVA [Concomitant]
     Active Substance: DENOSUMAB
     Route: 065
     Dates: start: 20161201
  726. XGEVA [Concomitant]
     Active Substance: DENOSUMAB
     Route: 065
     Dates: start: 20161201
  727. XGEVA [Concomitant]
     Active Substance: DENOSUMAB
     Route: 065
     Dates: start: 20161201
  728. XGEVA [Concomitant]
     Active Substance: DENOSUMAB
     Route: 065
     Dates: start: 20161201
  729. XGEVA [Concomitant]
     Active Substance: DENOSUMAB
     Route: 065
     Dates: start: 20161201
  730. XGEVA [Concomitant]
     Active Substance: DENOSUMAB
     Route: 065
     Dates: start: 20161201
  731. XGEVA [Concomitant]
     Active Substance: DENOSUMAB
     Route: 065
     Dates: start: 20161201
  732. XGEVA [Concomitant]
     Active Substance: DENOSUMAB
     Route: 065
     Dates: start: 20161201
  733. FILGRASTIM [Concomitant]
     Active Substance: FILGRASTIM
     Indication: Product used for unknown indication
     Route: 065
  734. FILGRASTIM [Concomitant]
     Active Substance: FILGRASTIM
     Route: 065
  735. FILGRASTIM [Concomitant]
     Active Substance: FILGRASTIM
     Route: 065
  736. FILGRASTIM [Concomitant]
     Active Substance: FILGRASTIM
     Route: 065
  737. FILGRASTIM [Concomitant]
     Active Substance: FILGRASTIM
     Route: 065
  738. FILGRASTIM [Concomitant]
     Active Substance: FILGRASTIM
     Route: 065
  739. ZOFRAN [Concomitant]
     Active Substance: ONDANSETRON HYDROCHLORIDE
     Indication: Product used for unknown indication
     Route: 065
  740. ZOFRAN [Concomitant]
     Active Substance: ONDANSETRON HYDROCHLORIDE
     Route: 065
  741. ZOFRAN [Concomitant]
     Active Substance: ONDANSETRON HYDROCHLORIDE
     Indication: Product used for unknown indication
     Route: 065

REACTIONS (13)
  - Dehydration [Recovered/Resolved]
  - Nausea [Recovered/Resolved]
  - Nausea [Recovered/Resolved]
  - Headache [Recovered/Resolved]
  - Thrombocytopenia [Recovering/Resolving]
  - White blood cell count decreased [Recovered/Resolved]
  - White blood cell count decreased [Not Recovered/Not Resolved]
  - Hemianopia [Recovered/Resolved]
  - Skin fissures [Recovered/Resolved]
  - Abdominal pain [Recovered/Resolved]
  - Diarrhoea [Recovered/Resolved]
  - Rash [Recovered/Resolved]
  - Intentional product use issue [Unknown]
